FAERS Safety Report 23460358 (Version 35)
Quarter: 2025Q1

REPORT INFORMATION
  Report Type: Spontaneous
  Country: GB (occurrence: GB)
  Receive Date: 20240131
  Receipt Date: 20250115
  Transmission Date: 20250409
  Serious: Yes (Other)
  Sender: ORGANON
  Company Number: None

PATIENT
  Age: 38 Year
  Sex: Male
  Weight: 104 kg

DRUGS (1282)
  1. SIMVASTATIN [Suspect]
     Active Substance: SIMVASTATIN
     Indication: Hypertension
     Route: 048
  2. SIMVASTATIN [Suspect]
     Active Substance: SIMVASTATIN
     Indication: Depression
     Route: 048
  3. SIMVASTATIN [Suspect]
     Active Substance: SIMVASTATIN
     Indication: Blood cholesterol increased
     Route: 048
  4. SIMVASTATIN [Suspect]
     Active Substance: SIMVASTATIN
     Indication: Hypercholesterolaemia
     Route: 065
  5. SIMVASTATIN [Suspect]
     Active Substance: SIMVASTATIN
     Route: 065
  6. SIMVASTATIN [Suspect]
     Active Substance: SIMVASTATIN
     Route: 048
  7. SIMVASTATIN [Suspect]
     Active Substance: SIMVASTATIN
     Route: 048
  8. SIMVASTATIN [Suspect]
     Active Substance: SIMVASTATIN
     Route: 048
  9. SIMVASTATIN [Suspect]
     Active Substance: SIMVASTATIN
     Route: 048
  10. SIMVASTATIN [Suspect]
     Active Substance: SIMVASTATIN
     Route: 065
  11. SIMVASTATIN [Suspect]
     Active Substance: SIMVASTATIN
     Route: 065
  12. SIMVASTATIN [Suspect]
     Active Substance: SIMVASTATIN
     Route: 065
  13. SIMVASTATIN [Suspect]
     Active Substance: SIMVASTATIN
     Route: 065
  14. SIMVASTATIN [Suspect]
     Active Substance: SIMVASTATIN
     Route: 065
  15. SIMVASTATIN [Suspect]
     Active Substance: SIMVASTATIN
     Route: 065
  16. SIMVASTATIN [Suspect]
     Active Substance: SIMVASTATIN
     Route: 065
  17. SIMVASTATIN [Suspect]
     Active Substance: SIMVASTATIN
     Route: 065
  18. SIMVASTATIN [Suspect]
     Active Substance: SIMVASTATIN
     Route: 065
  19. SIMVASTATIN [Suspect]
     Active Substance: SIMVASTATIN
     Route: 048
  20. SIMVASTATIN [Suspect]
     Active Substance: SIMVASTATIN
     Route: 048
  21. SIMVASTATIN [Suspect]
     Active Substance: SIMVASTATIN
  22. SIMVASTATIN [Suspect]
     Active Substance: SIMVASTATIN
  23. SIMVASTATIN [Suspect]
     Active Substance: SIMVASTATIN
  24. SIMVASTATIN [Suspect]
     Active Substance: SIMVASTATIN
  25. SIMVASTATIN [Suspect]
     Active Substance: SIMVASTATIN
  26. SIMVASTATIN [Suspect]
     Active Substance: SIMVASTATIN
  27. SIMVASTATIN [Suspect]
     Active Substance: SIMVASTATIN
  28. SIMVASTATIN [Suspect]
     Active Substance: SIMVASTATIN
  29. SIMVASTATIN [Suspect]
     Active Substance: SIMVASTATIN
     Route: 065
  30. SIMVASTATIN [Suspect]
     Active Substance: SIMVASTATIN
     Route: 048
  31. SIMVASTATIN [Suspect]
     Active Substance: SIMVASTATIN
     Route: 048
  32. SIMVASTATIN [Suspect]
     Active Substance: SIMVASTATIN
     Route: 048
  33. SIMVASTATIN [Suspect]
     Active Substance: SIMVASTATIN
     Route: 048
  34. SIMVASTATIN [Suspect]
     Active Substance: SIMVASTATIN
     Route: 048
  35. SIMVASTATIN [Suspect]
     Active Substance: SIMVASTATIN
     Route: 048
  36. SIMVASTATIN [Suspect]
     Active Substance: SIMVASTATIN
     Route: 048
  37. SIMVASTATIN [Suspect]
     Active Substance: SIMVASTATIN
     Route: 048
  38. SIMVASTATIN [Suspect]
     Active Substance: SIMVASTATIN
     Route: 048
  39. SIMVASTATIN [Suspect]
     Active Substance: SIMVASTATIN
     Route: 048
  40. SIMVASTATIN [Suspect]
     Active Substance: SIMVASTATIN
     Route: 048
  41. SIMVASTATIN [Suspect]
     Active Substance: SIMVASTATIN
     Route: 048
  42. SIMVASTATIN [Suspect]
     Active Substance: SIMVASTATIN
     Route: 048
  43. SIMVASTATIN [Suspect]
     Active Substance: SIMVASTATIN
     Route: 048
  44. SIMVASTATIN [Suspect]
     Active Substance: SIMVASTATIN
     Route: 048
  45. SIMVASTATIN [Suspect]
     Active Substance: SIMVASTATIN
     Route: 048
  46. SIMVASTATIN [Suspect]
     Active Substance: SIMVASTATIN
     Route: 048
  47. SIMVASTATIN [Suspect]
     Active Substance: SIMVASTATIN
     Route: 048
  48. SIMVASTATIN [Suspect]
     Active Substance: SIMVASTATIN
     Route: 048
  49. SIMVASTATIN [Suspect]
     Active Substance: SIMVASTATIN
  50. SIMVASTATIN [Suspect]
     Active Substance: SIMVASTATIN
     Indication: Hypertension
  51. SIMVASTATIN [Suspect]
     Active Substance: SIMVASTATIN
     Indication: Depression
  52. SIMVASTATIN [Suspect]
     Active Substance: SIMVASTATIN
     Indication: Blood cholesterol increased
  53. SIMVASTATIN [Suspect]
     Active Substance: SIMVASTATIN
  54. SIMVASTATIN [Suspect]
     Active Substance: SIMVASTATIN
  55. AMLODIPINE [Suspect]
     Active Substance: AMLODIPINE BESYLATE
     Indication: Blood cholesterol increased
     Route: 048
  56. AMLODIPINE [Suspect]
     Active Substance: AMLODIPINE BESYLATE
     Indication: Hypertension
     Route: 048
  57. AMLODIPINE [Suspect]
     Active Substance: AMLODIPINE BESYLATE
     Indication: Depression
     Route: 065
  58. AMLODIPINE [Suspect]
     Active Substance: AMLODIPINE BESYLATE
     Indication: Hypercholesterolaemia
     Route: 065
  59. AMLODIPINE [Suspect]
     Active Substance: AMLODIPINE BESYLATE
     Indication: Blood cholesterol increased
     Route: 065
  60. AMLODIPINE [Suspect]
     Active Substance: AMLODIPINE BESYLATE
     Route: 048
  61. AMLODIPINE [Suspect]
     Active Substance: AMLODIPINE BESYLATE
     Route: 048
  62. AMLODIPINE [Suspect]
     Active Substance: AMLODIPINE BESYLATE
     Route: 048
  63. AMLODIPINE [Suspect]
     Active Substance: AMLODIPINE BESYLATE
     Route: 048
  64. AMLODIPINE [Suspect]
     Active Substance: AMLODIPINE BESYLATE
     Route: 048
  65. AMLODIPINE [Suspect]
     Active Substance: AMLODIPINE BESYLATE
     Route: 065
  66. AMLODIPINE [Suspect]
     Active Substance: AMLODIPINE BESYLATE
     Route: 048
  67. AMLODIPINE [Suspect]
     Active Substance: AMLODIPINE BESYLATE
     Route: 048
  68. AMLODIPINE [Suspect]
     Active Substance: AMLODIPINE BESYLATE
     Route: 065
  69. AMLODIPINE [Suspect]
     Active Substance: AMLODIPINE BESYLATE
     Route: 065
  70. AMLODIPINE [Suspect]
     Active Substance: AMLODIPINE BESYLATE
     Route: 048
  71. AMLODIPINE [Suspect]
     Active Substance: AMLODIPINE BESYLATE
     Route: 048
  72. AMLODIPINE [Suspect]
     Active Substance: AMLODIPINE BESYLATE
     Route: 048
  73. AMLODIPINE [Suspect]
     Active Substance: AMLODIPINE BESYLATE
     Route: 065
  74. AMLODIPINE [Suspect]
     Active Substance: AMLODIPINE BESYLATE
     Route: 065
  75. AMLODIPINE [Suspect]
     Active Substance: AMLODIPINE BESYLATE
     Route: 065
  76. AMLODIPINE [Suspect]
     Active Substance: AMLODIPINE BESYLATE
     Route: 065
  77. AMLODIPINE [Suspect]
     Active Substance: AMLODIPINE BESYLATE
     Route: 065
  78. AMLODIPINE [Suspect]
     Active Substance: AMLODIPINE BESYLATE
     Route: 048
  79. AMLODIPINE [Suspect]
     Active Substance: AMLODIPINE BESYLATE
     Route: 048
  80. AMLODIPINE [Suspect]
     Active Substance: AMLODIPINE BESYLATE
     Route: 065
  81. AMLODIPINE [Suspect]
     Active Substance: AMLODIPINE BESYLATE
     Route: 048
  82. AMLODIPINE [Suspect]
     Active Substance: AMLODIPINE BESYLATE
     Route: 048
  83. AMLODIPINE [Suspect]
     Active Substance: AMLODIPINE BESYLATE
     Route: 065
  84. AMLODIPINE [Suspect]
     Active Substance: AMLODIPINE BESYLATE
     Route: 065
  85. AMLODIPINE [Suspect]
     Active Substance: AMLODIPINE BESYLATE
     Route: 048
  86. AMLODIPINE [Suspect]
     Active Substance: AMLODIPINE BESYLATE
     Route: 065
  87. AMLODIPINE [Suspect]
     Active Substance: AMLODIPINE BESYLATE
     Route: 048
  88. AMLODIPINE [Suspect]
     Active Substance: AMLODIPINE BESYLATE
  89. AMLODIPINE [Suspect]
     Active Substance: AMLODIPINE BESYLATE
  90. AMLODIPINE [Suspect]
     Active Substance: AMLODIPINE BESYLATE
  91. AMLODIPINE [Suspect]
     Active Substance: AMLODIPINE BESYLATE
  92. AMLODIPINE [Suspect]
     Active Substance: AMLODIPINE BESYLATE
  93. AMLODIPINE [Suspect]
     Active Substance: AMLODIPINE BESYLATE
  94. AMLODIPINE [Suspect]
     Active Substance: AMLODIPINE BESYLATE
  95. AMLODIPINE [Suspect]
     Active Substance: AMLODIPINE BESYLATE
  96. AMLODIPINE [Suspect]
     Active Substance: AMLODIPINE BESYLATE
  97. AMLODIPINE [Suspect]
     Active Substance: AMLODIPINE BESYLATE
  98. AMLODIPINE [Suspect]
     Active Substance: AMLODIPINE BESYLATE
  99. AMLODIPINE [Suspect]
     Active Substance: AMLODIPINE BESYLATE
  100. AMLODIPINE [Suspect]
     Active Substance: AMLODIPINE BESYLATE
  101. AMLODIPINE [Suspect]
     Active Substance: AMLODIPINE BESYLATE
  102. AMLODIPINE [Suspect]
     Active Substance: AMLODIPINE BESYLATE
  103. AMLODIPINE [Suspect]
     Active Substance: AMLODIPINE BESYLATE
  104. AMLODIPINE [Suspect]
     Active Substance: AMLODIPINE BESYLATE
  105. AMLODIPINE [Suspect]
     Active Substance: AMLODIPINE BESYLATE
  106. AMLODIPINE [Suspect]
     Active Substance: AMLODIPINE BESYLATE
  107. AMLODIPINE [Suspect]
     Active Substance: AMLODIPINE BESYLATE
  108. AMLODIPINE [Suspect]
     Active Substance: AMLODIPINE BESYLATE
  109. AMLODIPINE [Suspect]
     Active Substance: AMLODIPINE BESYLATE
  110. AMLODIPINE [Suspect]
     Active Substance: AMLODIPINE BESYLATE
  111. AMLODIPINE [Suspect]
     Active Substance: AMLODIPINE BESYLATE
  112. AMLODIPINE [Suspect]
     Active Substance: AMLODIPINE BESYLATE
  113. AMLODIPINE [Suspect]
     Active Substance: AMLODIPINE BESYLATE
  114. AMLODIPINE [Suspect]
     Active Substance: AMLODIPINE BESYLATE
  115. AMLODIPINE [Suspect]
     Active Substance: AMLODIPINE BESYLATE
  116. AMLODIPINE [Suspect]
     Active Substance: AMLODIPINE BESYLATE
  117. AMLODIPINE [Suspect]
     Active Substance: AMLODIPINE BESYLATE
  118. AMLODIPINE [Suspect]
     Active Substance: AMLODIPINE BESYLATE
  119. AMLODIPINE [Suspect]
     Active Substance: AMLODIPINE BESYLATE
  120. AMLODIPINE [Suspect]
     Active Substance: AMLODIPINE BESYLATE
  121. AMLODIPINE [Suspect]
     Active Substance: AMLODIPINE BESYLATE
  122. AMLODIPINE [Suspect]
     Active Substance: AMLODIPINE BESYLATE
  123. AMLODIPINE [Suspect]
     Active Substance: AMLODIPINE BESYLATE
  124. AMLODIPINE [Suspect]
     Active Substance: AMLODIPINE BESYLATE
  125. AMLODIPINE [Suspect]
     Active Substance: AMLODIPINE BESYLATE
  126. AMLODIPINE [Suspect]
     Active Substance: AMLODIPINE BESYLATE
  127. AMLODIPINE [Suspect]
     Active Substance: AMLODIPINE BESYLATE
  128. AMLODIPINE [Suspect]
     Active Substance: AMLODIPINE BESYLATE
  129. AMLODIPINE [Suspect]
     Active Substance: AMLODIPINE BESYLATE
  130. AMLODIPINE [Suspect]
     Active Substance: AMLODIPINE BESYLATE
  131. AMLODIPINE [Suspect]
     Active Substance: AMLODIPINE BESYLATE
     Route: 048
  132. AMLODIPINE [Suspect]
     Active Substance: AMLODIPINE BESYLATE
  133. AMLODIPINE [Suspect]
     Active Substance: AMLODIPINE BESYLATE
     Route: 048
  134. AMLODIPINE [Suspect]
     Active Substance: AMLODIPINE BESYLATE
  135. AMLODIPINE [Suspect]
     Active Substance: AMLODIPINE BESYLATE
     Route: 048
  136. AMLODIPINE BESYLATE [Suspect]
     Active Substance: AMLODIPINE BESYLATE
     Indication: Depression
     Route: 065
  137. AMLODIPINE BESYLATE [Suspect]
     Active Substance: AMLODIPINE BESYLATE
     Indication: Blood cholesterol increased
     Route: 065
  138. AMLODIPINE BESYLATE [Suspect]
     Active Substance: AMLODIPINE BESYLATE
     Indication: Hypertension
     Route: 065
  139. AMLODIPINE BESYLATE [Suspect]
     Active Substance: AMLODIPINE BESYLATE
     Indication: Hypercholesterolaemia
     Route: 048
  140. AMLODIPINE BESYLATE [Suspect]
     Active Substance: AMLODIPINE BESYLATE
     Route: 065
  141. AMLODIPINE BESYLATE [Suspect]
     Active Substance: AMLODIPINE BESYLATE
     Route: 048
  142. AMLODIPINE BESYLATE [Suspect]
     Active Substance: AMLODIPINE BESYLATE
     Route: 065
  143. AMLODIPINE BESYLATE [Suspect]
     Active Substance: AMLODIPINE BESYLATE
     Route: 065
  144. AMLODIPINE BESYLATE [Suspect]
     Active Substance: AMLODIPINE BESYLATE
     Route: 065
  145. AMLODIPINE BESYLATE [Suspect]
     Active Substance: AMLODIPINE BESYLATE
     Route: 048
  146. AMLODIPINE BESYLATE [Suspect]
     Active Substance: AMLODIPINE BESYLATE
     Route: 065
  147. AMLODIPINE BESYLATE [Suspect]
     Active Substance: AMLODIPINE BESYLATE
     Route: 048
  148. AMLODIPINE BESYLATE [Suspect]
     Active Substance: AMLODIPINE BESYLATE
     Route: 065
  149. AMLODIPINE BESYLATE [Suspect]
     Active Substance: AMLODIPINE BESYLATE
     Route: 065
  150. AMLODIPINE BESYLATE [Suspect]
     Active Substance: AMLODIPINE BESYLATE
     Route: 065
  151. AMLODIPINE BESYLATE [Suspect]
     Active Substance: AMLODIPINE BESYLATE
     Route: 048
  152. AMLODIPINE BESYLATE [Suspect]
     Active Substance: AMLODIPINE BESYLATE
     Route: 065
  153. AMLODIPINE BESYLATE [Suspect]
     Active Substance: AMLODIPINE BESYLATE
     Route: 065
  154. AMLODIPINE BESYLATE [Suspect]
     Active Substance: AMLODIPINE BESYLATE
     Route: 065
  155. AMLODIPINE BESYLATE [Suspect]
     Active Substance: AMLODIPINE BESYLATE
     Route: 048
  156. AMLODIPINE BESYLATE [Suspect]
     Active Substance: AMLODIPINE BESYLATE
     Route: 048
  157. AMLODIPINE BESYLATE [Suspect]
     Active Substance: AMLODIPINE BESYLATE
     Route: 065
  158. AMLODIPINE BESYLATE [Suspect]
     Active Substance: AMLODIPINE BESYLATE
     Route: 065
  159. AMLODIPINE BESYLATE [Suspect]
     Active Substance: AMLODIPINE BESYLATE
     Route: 065
  160. AMLODIPINE BESYLATE [Suspect]
     Active Substance: AMLODIPINE BESYLATE
     Route: 065
  161. AMLODIPINE BESYLATE [Suspect]
     Active Substance: AMLODIPINE BESYLATE
     Route: 065
  162. AMLODIPINE BESYLATE [Suspect]
     Active Substance: AMLODIPINE BESYLATE
     Route: 065
  163. AMLODIPINE BESYLATE [Suspect]
     Active Substance: AMLODIPINE BESYLATE
     Route: 065
  164. AMLODIPINE BESYLATE [Suspect]
     Active Substance: AMLODIPINE BESYLATE
     Route: 065
  165. AMLODIPINE BESYLATE [Suspect]
     Active Substance: AMLODIPINE BESYLATE
     Route: 065
  166. AMLODIPINE BESYLATE [Suspect]
     Active Substance: AMLODIPINE BESYLATE
     Route: 065
  167. AMLODIPINE BESYLATE [Suspect]
     Active Substance: AMLODIPINE BESYLATE
     Route: 048
  168. AMLODIPINE BESYLATE [Suspect]
     Active Substance: AMLODIPINE BESYLATE
     Route: 065
  169. AMLODIPINE BESYLATE [Suspect]
     Active Substance: AMLODIPINE BESYLATE
     Route: 065
  170. AMLODIPINE BESYLATE [Suspect]
     Active Substance: AMLODIPINE BESYLATE
     Route: 065
  171. AMLODIPINE BESYLATE [Suspect]
     Active Substance: AMLODIPINE BESYLATE
     Route: 048
  172. AMLODIPINE BESYLATE [Suspect]
     Active Substance: AMLODIPINE BESYLATE
     Route: 065
  173. AMLODIPINE BESYLATE [Suspect]
     Active Substance: AMLODIPINE BESYLATE
     Route: 065
  174. AMLODIPINE BESYLATE [Suspect]
     Active Substance: AMLODIPINE BESYLATE
     Route: 048
  175. AMLODIPINE BESYLATE [Suspect]
     Active Substance: AMLODIPINE BESYLATE
     Route: 065
  176. AMLODIPINE BESYLATE [Suspect]
     Active Substance: AMLODIPINE BESYLATE
     Route: 065
  177. AMLODIPINE BESYLATE [Suspect]
     Active Substance: AMLODIPINE BESYLATE
     Route: 065
  178. AMLODIPINE BESYLATE [Suspect]
     Active Substance: AMLODIPINE BESYLATE
     Route: 065
  179. AMLODIPINE BESYLATE [Suspect]
     Active Substance: AMLODIPINE BESYLATE
     Route: 065
  180. AMLODIPINE BESYLATE [Suspect]
     Active Substance: AMLODIPINE BESYLATE
     Route: 065
  181. AMLODIPINE BESYLATE [Suspect]
     Active Substance: AMLODIPINE BESYLATE
     Route: 048
  182. AMLODIPINE BESYLATE [Suspect]
     Active Substance: AMLODIPINE BESYLATE
     Route: 065
  183. AMLODIPINE BESYLATE [Suspect]
     Active Substance: AMLODIPINE BESYLATE
     Route: 048
  184. AMLODIPINE BESYLATE [Suspect]
     Active Substance: AMLODIPINE BESYLATE
     Route: 048
  185. AMLODIPINE BESYLATE [Suspect]
     Active Substance: AMLODIPINE BESYLATE
     Route: 048
  186. AMLODIPINE BESYLATE [Suspect]
     Active Substance: AMLODIPINE BESYLATE
     Route: 065
  187. AMLODIPINE BESYLATE [Suspect]
     Active Substance: AMLODIPINE BESYLATE
     Route: 065
  188. AMLODIPINE BESYLATE [Suspect]
     Active Substance: AMLODIPINE BESYLATE
     Route: 065
  189. AMLODIPINE BESYLATE [Suspect]
     Active Substance: AMLODIPINE BESYLATE
     Route: 048
  190. AMLODIPINE BESYLATE [Suspect]
     Active Substance: AMLODIPINE BESYLATE
     Route: 065
  191. AMLODIPINE BESYLATE [Suspect]
     Active Substance: AMLODIPINE BESYLATE
     Route: 065
  192. AMLODIPINE BESYLATE [Suspect]
     Active Substance: AMLODIPINE BESYLATE
     Route: 048
  193. AMLODIPINE BESYLATE [Suspect]
     Active Substance: AMLODIPINE BESYLATE
  194. AMLODIPINE BESYLATE [Suspect]
     Active Substance: AMLODIPINE BESYLATE
  195. AMLODIPINE BESYLATE [Suspect]
     Active Substance: AMLODIPINE BESYLATE
  196. AMLODIPINE BESYLATE [Suspect]
     Active Substance: AMLODIPINE BESYLATE
  197. AMLODIPINE BESYLATE [Suspect]
     Active Substance: AMLODIPINE BESYLATE
  198. AMLODIPINE BESYLATE [Suspect]
     Active Substance: AMLODIPINE BESYLATE
  199. AMLODIPINE BESYLATE [Suspect]
     Active Substance: AMLODIPINE BESYLATE
  200. AMLODIPINE BESYLATE [Suspect]
     Active Substance: AMLODIPINE BESYLATE
     Route: 048
  201. AMLODIPINE BESYLATE [Suspect]
     Active Substance: AMLODIPINE BESYLATE
     Route: 065
  202. AMLODIPINE BESYLATE [Suspect]
     Active Substance: AMLODIPINE BESYLATE
     Route: 048
  203. AMLODIPINE BESYLATE [Suspect]
     Active Substance: AMLODIPINE BESYLATE
     Route: 065
  204. AMLODIPINE BESYLATE [Suspect]
     Active Substance: AMLODIPINE BESYLATE
     Route: 048
  205. AMLODIPINE BESYLATE [Suspect]
     Active Substance: AMLODIPINE BESYLATE
     Route: 048
  206. AMLODIPINE BESYLATE [Suspect]
     Active Substance: AMLODIPINE BESYLATE
     Route: 065
  207. AMLODIPINE BESYLATE [Suspect]
     Active Substance: AMLODIPINE BESYLATE
     Route: 048
  208. AMLODIPINE BESYLATE [Suspect]
     Active Substance: AMLODIPINE BESYLATE
     Route: 048
  209. AMLODIPINE BESYLATE [Suspect]
     Active Substance: AMLODIPINE BESYLATE
     Route: 065
  210. AMLODIPINE BESYLATE [Suspect]
     Active Substance: AMLODIPINE BESYLATE
     Route: 048
  211. AMLODIPINE BESYLATE [Suspect]
     Active Substance: AMLODIPINE BESYLATE
     Route: 065
  212. AMLODIPINE BESYLATE [Suspect]
     Active Substance: AMLODIPINE BESYLATE
     Route: 048
  213. AMLODIPINE BESYLATE [Suspect]
     Active Substance: AMLODIPINE BESYLATE
     Route: 048
  214. AMLODIPINE BESYLATE [Suspect]
     Active Substance: AMLODIPINE BESYLATE
     Route: 048
  215. AMLODIPINE BESYLATE [Suspect]
     Active Substance: AMLODIPINE BESYLATE
     Route: 048
  216. AMLODIPINE BESYLATE [Suspect]
     Active Substance: AMLODIPINE BESYLATE
     Route: 048
  217. AMLODIPINE BESYLATE [Suspect]
     Active Substance: AMLODIPINE BESYLATE
     Route: 048
  218. AMLODIPINE BESYLATE [Suspect]
     Active Substance: AMLODIPINE BESYLATE
     Route: 065
  219. AMLODIPINE BESYLATE [Suspect]
     Active Substance: AMLODIPINE BESYLATE
     Route: 048
  220. AMLODIPINE BESYLATE [Suspect]
     Active Substance: AMLODIPINE BESYLATE
     Route: 048
  221. AMLODIPINE BESYLATE [Suspect]
     Active Substance: AMLODIPINE BESYLATE
     Route: 048
  222. AMLODIPINE BESYLATE [Suspect]
     Active Substance: AMLODIPINE BESYLATE
     Route: 048
  223. AMLODIPINE BESYLATE [Suspect]
     Active Substance: AMLODIPINE BESYLATE
     Route: 048
  224. AMLODIPINE BESYLATE [Suspect]
     Active Substance: AMLODIPINE BESYLATE
     Route: 048
  225. AMLODIPINE BESYLATE [Suspect]
     Active Substance: AMLODIPINE BESYLATE
     Route: 065
  226. AMLODIPINE BESYLATE [Suspect]
     Active Substance: AMLODIPINE BESYLATE
     Route: 048
  227. AMLODIPINE BESYLATE [Suspect]
     Active Substance: AMLODIPINE BESYLATE
     Route: 048
  228. AMLODIPINE BESYLATE [Suspect]
     Active Substance: AMLODIPINE BESYLATE
     Route: 048
  229. AMLODIPINE BESYLATE [Suspect]
     Active Substance: AMLODIPINE BESYLATE
     Route: 065
  230. AMLODIPINE BESYLATE [Suspect]
     Active Substance: AMLODIPINE BESYLATE
     Route: 048
  231. AMLODIPINE BESYLATE [Suspect]
     Active Substance: AMLODIPINE BESYLATE
     Route: 048
  232. AMLODIPINE BESYLATE [Suspect]
     Active Substance: AMLODIPINE BESYLATE
     Route: 048
  233. AMLODIPINE BESYLATE [Suspect]
     Active Substance: AMLODIPINE BESYLATE
     Route: 048
  234. AMLODIPINE BESYLATE [Suspect]
     Active Substance: AMLODIPINE BESYLATE
     Route: 048
  235. AMLODIPINE BESYLATE [Suspect]
     Active Substance: AMLODIPINE BESYLATE
     Route: 048
  236. AMLODIPINE BESYLATE [Suspect]
     Active Substance: AMLODIPINE BESYLATE
     Route: 048
  237. AMLODIPINE BESYLATE [Suspect]
     Active Substance: AMLODIPINE BESYLATE
     Route: 048
  238. AMLODIPINE BESYLATE [Suspect]
     Active Substance: AMLODIPINE BESYLATE
     Route: 048
  239. AMLODIPINE BESYLATE [Suspect]
     Active Substance: AMLODIPINE BESYLATE
     Route: 048
  240. AMLODIPINE BESYLATE [Suspect]
     Active Substance: AMLODIPINE BESYLATE
     Route: 048
  241. AMLODIPINE BESYLATE [Suspect]
     Active Substance: AMLODIPINE BESYLATE
     Route: 048
  242. AMLODIPINE BESYLATE [Suspect]
     Active Substance: AMLODIPINE BESYLATE
     Route: 065
  243. AMLODIPINE BESYLATE [Suspect]
     Active Substance: AMLODIPINE BESYLATE
     Route: 048
  244. AMLODIPINE BESYLATE [Suspect]
     Active Substance: AMLODIPINE BESYLATE
  245. AMLODIPINE BESYLATE [Suspect]
     Active Substance: AMLODIPINE BESYLATE
  246. AMLODIPINE BESYLATE [Suspect]
     Active Substance: AMLODIPINE BESYLATE
     Route: 048
  247. AMLODIPINE BESYLATE [Suspect]
     Active Substance: AMLODIPINE BESYLATE
  248. AMLODIPINE BESYLATE [Suspect]
     Active Substance: AMLODIPINE BESYLATE
  249. AMLODIPINE BESYLATE [Suspect]
     Active Substance: AMLODIPINE BESYLATE
  250. AMLODIPINE BESYLATE [Suspect]
     Active Substance: AMLODIPINE BESYLATE
  251. AMLODIPINE BESYLATE [Suspect]
     Active Substance: AMLODIPINE BESYLATE
     Route: 048
  252. AMLODIPINE BESYLATE [Suspect]
     Active Substance: AMLODIPINE BESYLATE
  253. AMLODIPINE BESYLATE [Suspect]
     Active Substance: AMLODIPINE BESYLATE
  254. AMLODIPINE BESYLATE [Suspect]
     Active Substance: AMLODIPINE BESYLATE
     Route: 048
  255. AMLODIPINE BESYLATE [Suspect]
     Active Substance: AMLODIPINE BESYLATE
     Route: 048
  256. AMLODIPINE BESYLATE [Suspect]
     Active Substance: AMLODIPINE BESYLATE
  257. AMLODIPINE BESYLATE [Suspect]
     Active Substance: AMLODIPINE BESYLATE
     Route: 048
  258. AMLODIPINE BESYLATE [Suspect]
     Active Substance: AMLODIPINE BESYLATE
  259. AMLODIPINE BESYLATE [Suspect]
     Active Substance: AMLODIPINE BESYLATE
  260. AMLODIPINE BESYLATE [Suspect]
     Active Substance: AMLODIPINE BESYLATE
  261. AMLODIPINE BESYLATE [Suspect]
     Active Substance: AMLODIPINE BESYLATE
  262. AMLODIPINE BESYLATE [Suspect]
     Active Substance: AMLODIPINE BESYLATE
     Route: 048
  263. AMLODIPINE BESYLATE [Suspect]
     Active Substance: AMLODIPINE BESYLATE
  264. AMLODIPINE BESYLATE [Suspect]
     Active Substance: AMLODIPINE BESYLATE
  265. AMLODIPINE BESYLATE [Suspect]
     Active Substance: AMLODIPINE BESYLATE
  266. AMLODIPINE BESYLATE [Suspect]
     Active Substance: AMLODIPINE BESYLATE
  267. AMLODIPINE BESYLATE [Suspect]
     Active Substance: AMLODIPINE BESYLATE
  268. AMLODIPINE BESYLATE [Suspect]
     Active Substance: AMLODIPINE BESYLATE
  269. AMLODIPINE BESYLATE [Suspect]
     Active Substance: AMLODIPINE BESYLATE
  270. AMLODIPINE BESYLATE [Suspect]
     Active Substance: AMLODIPINE BESYLATE
  271. AMLODIPINE BESYLATE [Suspect]
     Active Substance: AMLODIPINE BESYLATE
  272. AMLODIPINE BESYLATE [Suspect]
     Active Substance: AMLODIPINE BESYLATE
     Route: 048
  273. AMLODIPINE BESYLATE [Suspect]
     Active Substance: AMLODIPINE BESYLATE
  274. AMLODIPINE BESYLATE [Suspect]
     Active Substance: AMLODIPINE BESYLATE
  275. AMLODIPINE BESYLATE [Suspect]
     Active Substance: AMLODIPINE BESYLATE
  276. AMLODIPINE BESYLATE [Suspect]
     Active Substance: AMLODIPINE BESYLATE
  277. AMLODIPINE BESYLATE [Suspect]
     Active Substance: AMLODIPINE BESYLATE
  278. AMLODIPINE BESYLATE [Suspect]
     Active Substance: AMLODIPINE BESYLATE
  279. AMLODIPINE BESYLATE [Suspect]
     Active Substance: AMLODIPINE BESYLATE
  280. AMLODIPINE BESYLATE [Suspect]
     Active Substance: AMLODIPINE BESYLATE
  281. AMLODIPINE BESYLATE [Suspect]
     Active Substance: AMLODIPINE BESYLATE
  282. AMLODIPINE BESYLATE [Suspect]
     Active Substance: AMLODIPINE BESYLATE
  283. AMLODIPINE BESYLATE [Suspect]
     Active Substance: AMLODIPINE BESYLATE
     Route: 048
  284. AMLODIPINE BESYLATE [Suspect]
     Active Substance: AMLODIPINE BESYLATE
     Route: 048
  285. AMLODIPINE BESYLATE [Suspect]
     Active Substance: AMLODIPINE BESYLATE
  286. AMLODIPINE BESYLATE [Suspect]
     Active Substance: AMLODIPINE BESYLATE
  287. AMLODIPINE BESYLATE [Suspect]
     Active Substance: AMLODIPINE BESYLATE
  288. AMLODIPINE BESYLATE [Suspect]
     Active Substance: AMLODIPINE BESYLATE
  289. AMLODIPINE BESYLATE [Suspect]
     Active Substance: AMLODIPINE BESYLATE
  290. AMLODIPINE BESYLATE [Suspect]
     Active Substance: AMLODIPINE BESYLATE
     Route: 048
  291. AMLODIPINE BESYLATE [Suspect]
     Active Substance: AMLODIPINE BESYLATE
  292. AMLODIPINE BESYLATE [Suspect]
     Active Substance: AMLODIPINE BESYLATE
     Route: 048
  293. AMLODIPINE BESYLATE [Suspect]
     Active Substance: AMLODIPINE BESYLATE
  294. AMLODIPINE BESYLATE [Suspect]
     Active Substance: AMLODIPINE BESYLATE
  295. AMLODIPINE BESYLATE [Suspect]
     Active Substance: AMLODIPINE BESYLATE
  296. AMLODIPINE BESYLATE [Suspect]
     Active Substance: AMLODIPINE BESYLATE
  297. AMLODIPINE BESYLATE [Suspect]
     Active Substance: AMLODIPINE BESYLATE
     Route: 048
  298. AMLODIPINE BESYLATE [Suspect]
     Active Substance: AMLODIPINE BESYLATE
  299. AMLODIPINE BESYLATE [Suspect]
     Active Substance: AMLODIPINE BESYLATE
  300. AMLODIPINE BESYLATE [Suspect]
     Active Substance: AMLODIPINE BESYLATE
  301. AMLODIPINE BESYLATE [Suspect]
     Active Substance: AMLODIPINE BESYLATE
  302. AMLODIPINE BESYLATE [Suspect]
     Active Substance: AMLODIPINE BESYLATE
  303. AMLODIPINE BESYLATE [Suspect]
     Active Substance: AMLODIPINE BESYLATE
  304. AMLODIPINE BESYLATE [Suspect]
     Active Substance: AMLODIPINE BESYLATE
  305. AMLODIPINE BESYLATE [Suspect]
     Active Substance: AMLODIPINE BESYLATE
  306. AMLODIPINE BESYLATE [Suspect]
     Active Substance: AMLODIPINE BESYLATE
  307. AMLODIPINE BESYLATE [Suspect]
     Active Substance: AMLODIPINE BESYLATE
  308. AMLODIPINE BESYLATE [Suspect]
     Active Substance: AMLODIPINE BESYLATE
     Route: 048
  309. AMLODIPINE BESYLATE [Suspect]
     Active Substance: AMLODIPINE BESYLATE
  310. AMLODIPINE BESYLATE [Suspect]
     Active Substance: AMLODIPINE BESYLATE
  311. AMLODIPINE BESYLATE [Suspect]
     Active Substance: AMLODIPINE BESYLATE
  312. AMLODIPINE BESYLATE [Suspect]
     Active Substance: AMLODIPINE BESYLATE
  313. AMLODIPINE BESYLATE [Suspect]
     Active Substance: AMLODIPINE BESYLATE
  314. AMLODIPINE BESYLATE [Suspect]
     Active Substance: AMLODIPINE BESYLATE
  315. AMLODIPINE BESYLATE [Suspect]
     Active Substance: AMLODIPINE BESYLATE
     Route: 048
  316. AMLODIPINE BESYLATE [Suspect]
     Active Substance: AMLODIPINE BESYLATE
  317. AMLODIPINE BESYLATE [Suspect]
     Active Substance: AMLODIPINE BESYLATE
  318. AMLODIPINE BESYLATE [Suspect]
     Active Substance: AMLODIPINE BESYLATE
  319. AMLODIPINE BESYLATE [Suspect]
     Active Substance: AMLODIPINE BESYLATE
  320. AMLODIPINE BESYLATE [Suspect]
     Active Substance: AMLODIPINE BESYLATE
  321. AMLODIPINE BESYLATE [Suspect]
     Active Substance: AMLODIPINE BESYLATE
  322. AMLODIPINE BESYLATE [Suspect]
     Active Substance: AMLODIPINE BESYLATE
     Route: 048
  323. AMLODIPINE BESYLATE [Suspect]
     Active Substance: AMLODIPINE BESYLATE
  324. AMLODIPINE BESYLATE [Suspect]
     Active Substance: AMLODIPINE BESYLATE
  325. AMLODIPINE BESYLATE [Suspect]
     Active Substance: AMLODIPINE BESYLATE
  326. AMLODIPINE BESYLATE [Suspect]
     Active Substance: AMLODIPINE BESYLATE
  327. AMLODIPINE BESYLATE [Suspect]
     Active Substance: AMLODIPINE BESYLATE
  328. AMLODIPINE BESYLATE [Suspect]
     Active Substance: AMLODIPINE BESYLATE
  329. AMLODIPINE BESYLATE [Suspect]
     Active Substance: AMLODIPINE BESYLATE
  330. AMLODIPINE BESYLATE [Suspect]
     Active Substance: AMLODIPINE BESYLATE
  331. AMLODIPINE BESYLATE [Suspect]
     Active Substance: AMLODIPINE BESYLATE
  332. AMLODIPINE BESYLATE [Suspect]
     Active Substance: AMLODIPINE BESYLATE
  333. AMLODIPINE BESYLATE [Suspect]
     Active Substance: AMLODIPINE BESYLATE
  334. AMLODIPINE BESYLATE [Suspect]
     Active Substance: AMLODIPINE BESYLATE
  335. AMLODIPINE BESYLATE [Suspect]
     Active Substance: AMLODIPINE BESYLATE
  336. AMLODIPINE BESYLATE [Suspect]
     Active Substance: AMLODIPINE BESYLATE
  337. AMLODIPINE BESYLATE [Suspect]
     Active Substance: AMLODIPINE BESYLATE
  338. AMLODIPINE BESYLATE [Suspect]
     Active Substance: AMLODIPINE BESYLATE
  339. AMLODIPINE BESYLATE [Suspect]
     Active Substance: AMLODIPINE BESYLATE
  340. AMLODIPINE BESYLATE [Suspect]
     Active Substance: AMLODIPINE BESYLATE
  341. AMLODIPINE BESYLATE [Suspect]
     Active Substance: AMLODIPINE BESYLATE
  342. AMLODIPINE BESYLATE [Suspect]
     Active Substance: AMLODIPINE BESYLATE
  343. AMLODIPINE BESYLATE [Suspect]
     Active Substance: AMLODIPINE BESYLATE
  344. AMLODIPINE BESYLATE [Suspect]
     Active Substance: AMLODIPINE BESYLATE
  345. AMLODIPINE BESYLATE [Suspect]
     Active Substance: AMLODIPINE BESYLATE
  346. AMLODIPINE BESYLATE [Suspect]
     Active Substance: AMLODIPINE BESYLATE
  347. AMLODIPINE BESYLATE [Suspect]
     Active Substance: AMLODIPINE BESYLATE
  348. AMLODIPINE BESYLATE [Suspect]
     Active Substance: AMLODIPINE BESYLATE
  349. AMLODIPINE BESYLATE [Suspect]
     Active Substance: AMLODIPINE BESYLATE
  350. AMLODIPINE BESYLATE [Suspect]
     Active Substance: AMLODIPINE BESYLATE
  351. AMLODIPINE BESYLATE [Suspect]
     Active Substance: AMLODIPINE BESYLATE
  352. AMLODIPINE BESYLATE [Suspect]
     Active Substance: AMLODIPINE BESYLATE
  353. AMLODIPINE BESYLATE [Suspect]
     Active Substance: AMLODIPINE BESYLATE
  354. AMLODIPINE BESYLATE [Suspect]
     Active Substance: AMLODIPINE BESYLATE
  355. AMLODIPINE BESYLATE [Suspect]
     Active Substance: AMLODIPINE BESYLATE
  356. AMLODIPINE BESYLATE [Suspect]
     Active Substance: AMLODIPINE BESYLATE
  357. AMLODIPINE BESYLATE [Suspect]
     Active Substance: AMLODIPINE BESYLATE
  358. AMLODIPINE BESYLATE [Suspect]
     Active Substance: AMLODIPINE BESYLATE
  359. AMLODIPINE BESYLATE [Suspect]
     Active Substance: AMLODIPINE BESYLATE
  360. AMLODIPINE BESYLATE [Suspect]
     Active Substance: AMLODIPINE BESYLATE
  361. AMLODIPINE BESYLATE [Suspect]
     Active Substance: AMLODIPINE BESYLATE
  362. AMLODIPINE BESYLATE [Suspect]
     Active Substance: AMLODIPINE BESYLATE
  363. AMLODIPINE BESYLATE [Suspect]
     Active Substance: AMLODIPINE BESYLATE
  364. AMLODIPINE BESYLATE [Suspect]
     Active Substance: AMLODIPINE BESYLATE
  365. AMLODIPINE BESYLATE [Suspect]
     Active Substance: AMLODIPINE BESYLATE
  366. AMLODIPINE BESYLATE [Suspect]
     Active Substance: AMLODIPINE BESYLATE
  367. AMLODIPINE BESYLATE [Suspect]
     Active Substance: AMLODIPINE BESYLATE
  368. AMLODIPINE BESYLATE [Suspect]
     Active Substance: AMLODIPINE BESYLATE
  369. AMLODIPINE BESYLATE [Suspect]
     Active Substance: AMLODIPINE BESYLATE
  370. AMLODIPINE BESYLATE [Suspect]
     Active Substance: AMLODIPINE BESYLATE
  371. AMLODIPINE BESYLATE [Suspect]
     Active Substance: AMLODIPINE BESYLATE
  372. AMLODIPINE BESYLATE [Suspect]
     Active Substance: AMLODIPINE BESYLATE
  373. AMLODIPINE BESYLATE [Suspect]
     Active Substance: AMLODIPINE BESYLATE
  374. AMLODIPINE BESYLATE [Suspect]
     Active Substance: AMLODIPINE BESYLATE
  375. AMLODIPINE BESYLATE [Suspect]
     Active Substance: AMLODIPINE BESYLATE
  376. AMLODIPINE BESYLATE [Suspect]
     Active Substance: AMLODIPINE BESYLATE
  377. AMLODIPINE BESYLATE [Suspect]
     Active Substance: AMLODIPINE BESYLATE
     Route: 048
  378. AMLODIPINE BESYLATE [Suspect]
     Active Substance: AMLODIPINE BESYLATE
  379. AMLODIPINE BESYLATE [Suspect]
     Active Substance: AMLODIPINE BESYLATE
  380. AMLODIPINE BESYLATE [Suspect]
     Active Substance: AMLODIPINE BESYLATE
  381. AMLODIPINE BESYLATE [Suspect]
     Active Substance: AMLODIPINE BESYLATE
  382. AMLODIPINE BESYLATE [Suspect]
     Active Substance: AMLODIPINE BESYLATE
  383. AMLODIPINE BESYLATE [Suspect]
     Active Substance: AMLODIPINE BESYLATE
  384. AMLODIPINE BESYLATE [Suspect]
     Active Substance: AMLODIPINE BESYLATE
  385. AMLODIPINE BESYLATE [Suspect]
     Active Substance: AMLODIPINE BESYLATE
  386. AMLODIPINE BESYLATE [Suspect]
     Active Substance: AMLODIPINE BESYLATE
  387. AMLODIPINE BESYLATE [Suspect]
     Active Substance: AMLODIPINE BESYLATE
  388. AMLODIPINE BESYLATE [Suspect]
     Active Substance: AMLODIPINE BESYLATE
  389. AMLODIPINE BESYLATE [Suspect]
     Active Substance: AMLODIPINE BESYLATE
  390. AMLODIPINE BESYLATE [Suspect]
     Active Substance: AMLODIPINE BESYLATE
  391. AMLODIPINE BESYLATE [Suspect]
     Active Substance: AMLODIPINE BESYLATE
  392. AMLODIPINE BESYLATE [Suspect]
     Active Substance: AMLODIPINE BESYLATE
  393. AMLODIPINE BESYLATE [Suspect]
     Active Substance: AMLODIPINE BESYLATE
  394. AMLODIPINE BESYLATE [Suspect]
     Active Substance: AMLODIPINE BESYLATE
  395. AMLODIPINE BESYLATE [Suspect]
     Active Substance: AMLODIPINE BESYLATE
  396. AMLODIPINE BESYLATE [Suspect]
     Active Substance: AMLODIPINE BESYLATE
  397. AMLODIPINE BESYLATE [Suspect]
     Active Substance: AMLODIPINE BESYLATE
  398. AMLODIPINE BESYLATE [Suspect]
     Active Substance: AMLODIPINE BESYLATE
  399. AMLODIPINE BESYLATE [Suspect]
     Active Substance: AMLODIPINE BESYLATE
  400. AMLODIPINE BESYLATE [Suspect]
     Active Substance: AMLODIPINE BESYLATE
  401. AMLODIPINE BESYLATE [Suspect]
     Active Substance: AMLODIPINE BESYLATE
  402. AMLODIPINE BESYLATE [Suspect]
     Active Substance: AMLODIPINE BESYLATE
  403. AMLODIPINE BESYLATE [Suspect]
     Active Substance: AMLODIPINE BESYLATE
  404. AMLODIPINE BESYLATE [Suspect]
     Active Substance: AMLODIPINE BESYLATE
  405. AMLODIPINE BESYLATE [Suspect]
     Active Substance: AMLODIPINE BESYLATE
  406. AMLODIPINE BESYLATE [Suspect]
     Active Substance: AMLODIPINE BESYLATE
  407. AMLODIPINE BESYLATE [Suspect]
     Active Substance: AMLODIPINE BESYLATE
  408. AMLODIPINE BESYLATE [Suspect]
     Active Substance: AMLODIPINE BESYLATE
  409. AMLODIPINE BESYLATE [Suspect]
     Active Substance: AMLODIPINE BESYLATE
  410. AMLODIPINE BESYLATE [Suspect]
     Active Substance: AMLODIPINE BESYLATE
  411. AMLODIPINE BESYLATE [Suspect]
     Active Substance: AMLODIPINE BESYLATE
  412. AMLODIPINE BESYLATE [Suspect]
     Active Substance: AMLODIPINE BESYLATE
  413. AMLODIPINE BESYLATE [Suspect]
     Active Substance: AMLODIPINE BESYLATE
  414. AMLODIPINE BESYLATE [Suspect]
     Active Substance: AMLODIPINE BESYLATE
  415. AMLODIPINE BESYLATE [Suspect]
     Active Substance: AMLODIPINE BESYLATE
  416. AMLODIPINE BESYLATE [Suspect]
     Active Substance: AMLODIPINE BESYLATE
  417. AMLODIPINE BESYLATE [Suspect]
     Active Substance: AMLODIPINE BESYLATE
  418. AMLODIPINE BESYLATE [Suspect]
     Active Substance: AMLODIPINE BESYLATE
  419. AMLODIPINE BESYLATE [Suspect]
     Active Substance: AMLODIPINE BESYLATE
  420. AMLODIPINE BESYLATE [Suspect]
     Active Substance: AMLODIPINE BESYLATE
  421. AMLODIPINE BESYLATE [Suspect]
     Active Substance: AMLODIPINE BESYLATE
  422. AMLODIPINE BESYLATE [Suspect]
     Active Substance: AMLODIPINE BESYLATE
  423. AMLODIPINE BESYLATE [Suspect]
     Active Substance: AMLODIPINE BESYLATE
  424. AMLODIPINE BESYLATE [Suspect]
     Active Substance: AMLODIPINE BESYLATE
  425. AMLODIPINE BESYLATE [Suspect]
     Active Substance: AMLODIPINE BESYLATE
  426. AMLODIPINE BESYLATE [Suspect]
     Active Substance: AMLODIPINE BESYLATE
  427. AMLODIPINE BESYLATE [Suspect]
     Active Substance: AMLODIPINE BESYLATE
  428. AMLODIPINE BESYLATE [Suspect]
     Active Substance: AMLODIPINE BESYLATE
  429. AMLODIPINE BESYLATE [Suspect]
     Active Substance: AMLODIPINE BESYLATE
  430. AMLODIPINE BESYLATE [Suspect]
     Active Substance: AMLODIPINE BESYLATE
  431. AMLODIPINE BESYLATE [Suspect]
     Active Substance: AMLODIPINE BESYLATE
  432. AMLODIPINE BESYLATE [Suspect]
     Active Substance: AMLODIPINE BESYLATE
  433. AMLODIPINE BESYLATE [Suspect]
     Active Substance: AMLODIPINE BESYLATE
  434. AMLODIPINE BESYLATE [Suspect]
     Active Substance: AMLODIPINE BESYLATE
  435. AMLODIPINE BESYLATE [Suspect]
     Active Substance: AMLODIPINE BESYLATE
  436. AMLODIPINE BESYLATE [Suspect]
     Active Substance: AMLODIPINE BESYLATE
  437. AMLODIPINE BESYLATE [Suspect]
     Active Substance: AMLODIPINE BESYLATE
  438. AMLODIPINE BESYLATE [Suspect]
     Active Substance: AMLODIPINE BESYLATE
  439. AMLODIPINE BESYLATE [Suspect]
     Active Substance: AMLODIPINE BESYLATE
  440. AMLODIPINE BESYLATE [Suspect]
     Active Substance: AMLODIPINE BESYLATE
  441. AMLODIPINE BESYLATE [Suspect]
     Active Substance: AMLODIPINE BESYLATE
  442. AMLODIPINE BESYLATE [Suspect]
     Active Substance: AMLODIPINE BESYLATE
  443. AMLODIPINE BESYLATE [Suspect]
     Active Substance: AMLODIPINE BESYLATE
  444. AMLODIPINE BESYLATE [Suspect]
     Active Substance: AMLODIPINE BESYLATE
  445. AMLODIPINE BESYLATE [Suspect]
     Active Substance: AMLODIPINE BESYLATE
  446. AMLODIPINE BESYLATE [Suspect]
     Active Substance: AMLODIPINE BESYLATE
  447. AMLODIPINE BESYLATE [Suspect]
     Active Substance: AMLODIPINE BESYLATE
  448. AMLODIPINE BESYLATE [Suspect]
     Active Substance: AMLODIPINE BESYLATE
  449. AMLODIPINE BESYLATE [Suspect]
     Active Substance: AMLODIPINE BESYLATE
  450. AMLODIPINE BESYLATE [Suspect]
     Active Substance: AMLODIPINE BESYLATE
  451. AMLODIPINE BESYLATE [Suspect]
     Active Substance: AMLODIPINE BESYLATE
  452. AMLODIPINE BESYLATE [Suspect]
     Active Substance: AMLODIPINE BESYLATE
  453. AMLODIPINE BESYLATE [Suspect]
     Active Substance: AMLODIPINE BESYLATE
  454. AMLODIPINE BESYLATE [Suspect]
     Active Substance: AMLODIPINE BESYLATE
  455. AMLODIPINE BESYLATE [Suspect]
     Active Substance: AMLODIPINE BESYLATE
  456. AMLODIPINE BESYLATE [Suspect]
     Active Substance: AMLODIPINE BESYLATE
  457. AMLODIPINE BESYLATE [Suspect]
     Active Substance: AMLODIPINE BESYLATE
  458. AMLODIPINE BESYLATE [Suspect]
     Active Substance: AMLODIPINE BESYLATE
  459. AMLODIPINE BESYLATE [Suspect]
     Active Substance: AMLODIPINE BESYLATE
  460. AMLODIPINE BESYLATE [Suspect]
     Active Substance: AMLODIPINE BESYLATE
  461. AMLODIPINE BESYLATE [Suspect]
     Active Substance: AMLODIPINE BESYLATE
  462. AMLODIPINE BESYLATE [Suspect]
     Active Substance: AMLODIPINE BESYLATE
  463. AMLODIPINE BESYLATE [Suspect]
     Active Substance: AMLODIPINE BESYLATE
  464. AMLODIPINE BESYLATE [Suspect]
     Active Substance: AMLODIPINE BESYLATE
  465. AMLODIPINE BESYLATE [Suspect]
     Active Substance: AMLODIPINE BESYLATE
  466. AMLODIPINE BESYLATE [Suspect]
     Active Substance: AMLODIPINE BESYLATE
  467. AMLODIPINE BESYLATE [Suspect]
     Active Substance: AMLODIPINE BESYLATE
  468. AMLODIPINE BESYLATE [Suspect]
     Active Substance: AMLODIPINE BESYLATE
  469. AMLODIPINE BESYLATE [Suspect]
     Active Substance: AMLODIPINE BESYLATE
  470. AMLODIPINE BESYLATE [Suspect]
     Active Substance: AMLODIPINE BESYLATE
  471. AMLODIPINE BESYLATE [Suspect]
     Active Substance: AMLODIPINE BESYLATE
  472. AMLODIPINE BESYLATE [Suspect]
     Active Substance: AMLODIPINE BESYLATE
  473. AMLODIPINE BESYLATE [Suspect]
     Active Substance: AMLODIPINE BESYLATE
  474. AMLODIPINE BESYLATE [Suspect]
     Active Substance: AMLODIPINE BESYLATE
  475. AMLODIPINE BESYLATE [Suspect]
     Active Substance: AMLODIPINE BESYLATE
  476. AMLODIPINE BESYLATE [Suspect]
     Active Substance: AMLODIPINE BESYLATE
  477. AMLODIPINE BESYLATE [Suspect]
     Active Substance: AMLODIPINE BESYLATE
  478. AMLODIPINE BESYLATE [Suspect]
     Active Substance: AMLODIPINE BESYLATE
  479. AMLODIPINE BESYLATE [Suspect]
     Active Substance: AMLODIPINE BESYLATE
  480. AMLODIPINE BESYLATE [Suspect]
     Active Substance: AMLODIPINE BESYLATE
  481. AMLODIPINE BESYLATE [Suspect]
     Active Substance: AMLODIPINE BESYLATE
  482. AMLODIPINE BESYLATE [Suspect]
     Active Substance: AMLODIPINE BESYLATE
  483. AMLODIPINE BESYLATE [Suspect]
     Active Substance: AMLODIPINE BESYLATE
  484. AMLODIPINE BESYLATE [Suspect]
     Active Substance: AMLODIPINE BESYLATE
  485. AMLODIPINE BESYLATE [Suspect]
     Active Substance: AMLODIPINE BESYLATE
  486. AMLODIPINE BESYLATE [Suspect]
     Active Substance: AMLODIPINE BESYLATE
  487. AMLODIPINE BESYLATE [Suspect]
     Active Substance: AMLODIPINE BESYLATE
  488. AMLODIPINE BESYLATE [Suspect]
     Active Substance: AMLODIPINE BESYLATE
  489. AMLODIPINE BESYLATE [Suspect]
     Active Substance: AMLODIPINE BESYLATE
  490. AMLODIPINE BESYLATE [Suspect]
     Active Substance: AMLODIPINE BESYLATE
  491. AMLODIPINE BESYLATE [Suspect]
     Active Substance: AMLODIPINE BESYLATE
  492. AMLODIPINE BESYLATE [Suspect]
     Active Substance: AMLODIPINE BESYLATE
  493. AMLODIPINE BESYLATE [Suspect]
     Active Substance: AMLODIPINE BESYLATE
  494. AMLODIPINE BESYLATE [Suspect]
     Active Substance: AMLODIPINE BESYLATE
  495. AMLODIPINE BESYLATE [Suspect]
     Active Substance: AMLODIPINE BESYLATE
  496. AMLODIPINE BESYLATE [Suspect]
     Active Substance: AMLODIPINE BESYLATE
  497. AMLODIPINE BESYLATE [Suspect]
     Active Substance: AMLODIPINE BESYLATE
  498. AMLODIPINE BESYLATE [Suspect]
     Active Substance: AMLODIPINE BESYLATE
  499. AMLODIPINE BESYLATE [Suspect]
     Active Substance: AMLODIPINE BESYLATE
  500. AMLODIPINE BESYLATE [Suspect]
     Active Substance: AMLODIPINE BESYLATE
  501. AMLODIPINE BESYLATE [Suspect]
     Active Substance: AMLODIPINE BESYLATE
  502. AMLODIPINE BESYLATE [Suspect]
     Active Substance: AMLODIPINE BESYLATE
  503. AMLODIPINE BESYLATE [Suspect]
     Active Substance: AMLODIPINE BESYLATE
  504. AMLODIPINE BESYLATE [Suspect]
     Active Substance: AMLODIPINE BESYLATE
  505. AMLODIPINE BESYLATE [Suspect]
     Active Substance: AMLODIPINE BESYLATE
  506. AMLODIPINE BESYLATE [Suspect]
     Active Substance: AMLODIPINE BESYLATE
  507. AMLODIPINE BESYLATE [Suspect]
     Active Substance: AMLODIPINE BESYLATE
  508. AMLODIPINE BESYLATE [Suspect]
     Active Substance: AMLODIPINE BESYLATE
  509. AMLODIPINE BESYLATE [Suspect]
     Active Substance: AMLODIPINE BESYLATE
     Route: 048
  510. AMLODIPINE BESYLATE [Suspect]
     Active Substance: AMLODIPINE BESYLATE
     Route: 048
  511. AMLODIPINE BESYLATE [Suspect]
     Active Substance: AMLODIPINE BESYLATE
     Route: 048
  512. AMLODIPINE BESYLATE [Suspect]
     Active Substance: AMLODIPINE BESYLATE
     Route: 048
  513. AMLODIPINE BESYLATE [Suspect]
     Active Substance: AMLODIPINE BESYLATE
     Route: 048
  514. AMLODIPINE BESYLATE [Suspect]
     Active Substance: AMLODIPINE BESYLATE
     Route: 048
  515. AMLODIPINE BESYLATE [Suspect]
     Active Substance: AMLODIPINE BESYLATE
     Route: 048
  516. AMLODIPINE BESYLATE [Suspect]
     Active Substance: AMLODIPINE BESYLATE
     Route: 048
  517. AMLODIPINE BESYLATE [Suspect]
     Active Substance: AMLODIPINE BESYLATE
     Route: 048
  518. AMLODIPINE BESYLATE [Suspect]
     Active Substance: AMLODIPINE BESYLATE
     Route: 048
  519. AMLODIPINE BESYLATE [Suspect]
     Active Substance: AMLODIPINE BESYLATE
     Route: 048
  520. AMLODIPINE BESYLATE [Suspect]
     Active Substance: AMLODIPINE BESYLATE
     Route: 048
  521. AMLODIPINE BESYLATE [Suspect]
     Active Substance: AMLODIPINE BESYLATE
     Route: 048
  522. AMLODIPINE BESYLATE [Suspect]
     Active Substance: AMLODIPINE BESYLATE
     Route: 048
  523. AMLODIPINE BESYLATE [Suspect]
     Active Substance: AMLODIPINE BESYLATE
     Route: 048
  524. AMLODIPINE BESYLATE [Suspect]
     Active Substance: AMLODIPINE BESYLATE
     Route: 048
  525. AMLODIPINE BESYLATE [Suspect]
     Active Substance: AMLODIPINE BESYLATE
     Route: 048
  526. AMLODIPINE BESYLATE [Suspect]
     Active Substance: AMLODIPINE BESYLATE
     Route: 048
  527. AMLODIPINE BESYLATE [Suspect]
     Active Substance: AMLODIPINE BESYLATE
     Route: 048
  528. AMLODIPINE BESYLATE [Suspect]
     Active Substance: AMLODIPINE BESYLATE
     Route: 048
  529. FLUOXETINE [Suspect]
     Active Substance: FLUOXETINE HYDROCHLORIDE
     Indication: Blood cholesterol increased
     Route: 065
  530. FLUOXETINE [Suspect]
     Active Substance: FLUOXETINE HYDROCHLORIDE
     Indication: Hypertension
     Route: 065
  531. FLUOXETINE [Suspect]
     Active Substance: FLUOXETINE HYDROCHLORIDE
     Indication: Depression
     Route: 065
  532. FLUOXETINE [Suspect]
     Active Substance: FLUOXETINE HYDROCHLORIDE
     Indication: Blood cholesterol increased
     Route: 065
  533. FLUOXETINE [Suspect]
     Active Substance: FLUOXETINE HYDROCHLORIDE
     Indication: Blood cholesterol increased
     Route: 065
  534. FLUOXETINE [Suspect]
     Active Substance: FLUOXETINE HYDROCHLORIDE
     Indication: Hypercholesterolaemia
     Route: 047
  535. FLUOXETINE [Suspect]
     Active Substance: FLUOXETINE HYDROCHLORIDE
     Dates: start: 20231220
  536. FLUOXETINE [Suspect]
     Active Substance: FLUOXETINE HYDROCHLORIDE
     Dates: start: 20231220
  537. FLUOXETINE [Suspect]
     Active Substance: FLUOXETINE HYDROCHLORIDE
     Route: 061
  538. FLUOXETINE [Suspect]
     Active Substance: FLUOXETINE HYDROCHLORIDE
  539. FLUOXETINE [Suspect]
     Active Substance: FLUOXETINE HYDROCHLORIDE
     Route: 065
  540. FLUOXETINE [Suspect]
     Active Substance: FLUOXETINE HYDROCHLORIDE
     Route: 065
  541. FLUOXETINE [Suspect]
     Active Substance: FLUOXETINE HYDROCHLORIDE
     Route: 065
  542. FLUOXETINE [Suspect]
     Active Substance: FLUOXETINE HYDROCHLORIDE
     Route: 065
  543. FLUOXETINE [Suspect]
     Active Substance: FLUOXETINE HYDROCHLORIDE
     Route: 065
  544. FLUOXETINE [Suspect]
     Active Substance: FLUOXETINE HYDROCHLORIDE
     Route: 065
  545. FLUOXETINE [Suspect]
     Active Substance: FLUOXETINE HYDROCHLORIDE
     Route: 065
  546. FLUOXETINE [Suspect]
     Active Substance: FLUOXETINE HYDROCHLORIDE
     Route: 065
  547. FLUOXETINE [Suspect]
     Active Substance: FLUOXETINE HYDROCHLORIDE
     Route: 065
  548. FLUOXETINE [Suspect]
     Active Substance: FLUOXETINE HYDROCHLORIDE
     Dates: start: 20231220
  549. FLUOXETINE [Suspect]
     Active Substance: FLUOXETINE HYDROCHLORIDE
     Route: 047
  550. FLUOXETINE [Suspect]
     Active Substance: FLUOXETINE HYDROCHLORIDE
     Dates: start: 20231220
  551. FLUOXETINE [Suspect]
     Active Substance: FLUOXETINE HYDROCHLORIDE
     Route: 065
  552. FLUOXETINE [Suspect]
     Active Substance: FLUOXETINE HYDROCHLORIDE
     Route: 065
  553. FLUOXETINE [Suspect]
     Active Substance: FLUOXETINE HYDROCHLORIDE
     Route: 065
  554. FLUOXETINE [Suspect]
     Active Substance: FLUOXETINE HYDROCHLORIDE
     Route: 065
  555. FLUOXETINE [Suspect]
     Active Substance: FLUOXETINE HYDROCHLORIDE
     Route: 065
  556. FLUOXETINE [Suspect]
     Active Substance: FLUOXETINE HYDROCHLORIDE
  557. FLUOXETINE [Suspect]
     Active Substance: FLUOXETINE HYDROCHLORIDE
     Route: 065
  558. FLUOXETINE [Suspect]
     Active Substance: FLUOXETINE HYDROCHLORIDE
     Route: 065
  559. FLUOXETINE [Suspect]
     Active Substance: FLUOXETINE HYDROCHLORIDE
     Route: 065
  560. FLUOXETINE [Suspect]
     Active Substance: FLUOXETINE HYDROCHLORIDE
     Route: 065
  561. FLUOXETINE [Suspect]
     Active Substance: FLUOXETINE HYDROCHLORIDE
     Route: 065
  562. FLUOXETINE [Suspect]
     Active Substance: FLUOXETINE HYDROCHLORIDE
     Route: 065
  563. FLUOXETINE [Suspect]
     Active Substance: FLUOXETINE HYDROCHLORIDE
     Route: 065
  564. FLUOXETINE [Suspect]
     Active Substance: FLUOXETINE HYDROCHLORIDE
     Route: 065
  565. FLUOXETINE [Suspect]
     Active Substance: FLUOXETINE HYDROCHLORIDE
     Route: 065
  566. FLUOXETINE [Suspect]
     Active Substance: FLUOXETINE HYDROCHLORIDE
     Route: 065
  567. FLUOXETINE [Suspect]
     Active Substance: FLUOXETINE HYDROCHLORIDE
     Route: 065
  568. FLUOXETINE [Suspect]
     Active Substance: FLUOXETINE HYDROCHLORIDE
     Route: 065
  569. FLUOXETINE [Suspect]
     Active Substance: FLUOXETINE HYDROCHLORIDE
     Route: 065
  570. FLUOXETINE [Suspect]
     Active Substance: FLUOXETINE HYDROCHLORIDE
     Route: 065
  571. FLUOXETINE [Suspect]
     Active Substance: FLUOXETINE HYDROCHLORIDE
     Route: 065
  572. FLUOXETINE [Suspect]
     Active Substance: FLUOXETINE HYDROCHLORIDE
     Route: 065
  573. FLUOXETINE [Suspect]
     Active Substance: FLUOXETINE HYDROCHLORIDE
     Route: 065
  574. FLUOXETINE [Suspect]
     Active Substance: FLUOXETINE HYDROCHLORIDE
     Route: 061
  575. FLUOXETINE [Suspect]
     Active Substance: FLUOXETINE HYDROCHLORIDE
     Dates: start: 20231220
  576. FLUOXETINE [Suspect]
     Active Substance: FLUOXETINE HYDROCHLORIDE
     Route: 065
  577. FLUOXETINE [Suspect]
     Active Substance: FLUOXETINE HYDROCHLORIDE
     Route: 065
  578. FLUOXETINE [Suspect]
     Active Substance: FLUOXETINE HYDROCHLORIDE
     Route: 065
  579. FLUOXETINE [Suspect]
     Active Substance: FLUOXETINE HYDROCHLORIDE
     Route: 065
  580. FLUOXETINE [Suspect]
     Active Substance: FLUOXETINE HYDROCHLORIDE
     Route: 065
  581. FLUOXETINE [Suspect]
     Active Substance: FLUOXETINE HYDROCHLORIDE
     Route: 065
  582. FLUOXETINE [Suspect]
     Active Substance: FLUOXETINE HYDROCHLORIDE
     Route: 065
  583. FLUOXETINE [Suspect]
     Active Substance: FLUOXETINE HYDROCHLORIDE
     Route: 065
  584. FLUOXETINE [Suspect]
     Active Substance: FLUOXETINE HYDROCHLORIDE
     Route: 065
  585. FLUOXETINE [Suspect]
     Active Substance: FLUOXETINE HYDROCHLORIDE
     Route: 065
  586. FLUOXETINE [Suspect]
     Active Substance: FLUOXETINE HYDROCHLORIDE
     Route: 065
  587. FLUOXETINE [Suspect]
     Active Substance: FLUOXETINE HYDROCHLORIDE
     Route: 065
  588. FLUOXETINE [Suspect]
     Active Substance: FLUOXETINE HYDROCHLORIDE
     Route: 065
  589. FLUOXETINE [Suspect]
     Active Substance: FLUOXETINE HYDROCHLORIDE
     Route: 065
  590. FLUOXETINE [Suspect]
     Active Substance: FLUOXETINE HYDROCHLORIDE
     Route: 050
  591. FLUOXETINE [Suspect]
     Active Substance: FLUOXETINE HYDROCHLORIDE
     Route: 065
  592. FLUOXETINE [Suspect]
     Active Substance: FLUOXETINE HYDROCHLORIDE
     Route: 065
  593. FLUOXETINE [Suspect]
     Active Substance: FLUOXETINE HYDROCHLORIDE
     Route: 065
  594. FLUOXETINE [Suspect]
     Active Substance: FLUOXETINE HYDROCHLORIDE
     Route: 065
  595. FLUOXETINE [Suspect]
     Active Substance: FLUOXETINE HYDROCHLORIDE
     Route: 065
  596. FLUOXETINE [Suspect]
     Active Substance: FLUOXETINE HYDROCHLORIDE
     Route: 065
  597. FLUOXETINE [Suspect]
     Active Substance: FLUOXETINE HYDROCHLORIDE
     Route: 065
  598. FLUOXETINE [Suspect]
     Active Substance: FLUOXETINE HYDROCHLORIDE
     Route: 065
  599. FLUOXETINE [Suspect]
     Active Substance: FLUOXETINE HYDROCHLORIDE
     Route: 065
  600. FLUOXETINE [Suspect]
     Active Substance: FLUOXETINE HYDROCHLORIDE
     Route: 065
  601. FLUOXETINE [Suspect]
     Active Substance: FLUOXETINE HYDROCHLORIDE
     Route: 065
  602. FLUOXETINE [Suspect]
     Active Substance: FLUOXETINE HYDROCHLORIDE
     Route: 065
  603. FLUOXETINE [Suspect]
     Active Substance: FLUOXETINE HYDROCHLORIDE
     Route: 061
  604. FLUOXETINE [Suspect]
     Active Substance: FLUOXETINE HYDROCHLORIDE
  605. FLUOXETINE [Suspect]
     Active Substance: FLUOXETINE HYDROCHLORIDE
  606. FLUOXETINE [Suspect]
     Active Substance: FLUOXETINE HYDROCHLORIDE
  607. FLUOXETINE [Suspect]
     Active Substance: FLUOXETINE HYDROCHLORIDE
  608. FLUOXETINE [Suspect]
     Active Substance: FLUOXETINE HYDROCHLORIDE
  609. FLUOXETINE [Suspect]
     Active Substance: FLUOXETINE HYDROCHLORIDE
  610. FLUOXETINE [Suspect]
     Active Substance: FLUOXETINE HYDROCHLORIDE
  611. FLUOXETINE [Suspect]
     Active Substance: FLUOXETINE HYDROCHLORIDE
  612. FLUOXETINE [Suspect]
     Active Substance: FLUOXETINE HYDROCHLORIDE
  613. FLUOXETINE [Suspect]
     Active Substance: FLUOXETINE HYDROCHLORIDE
  614. FLUOXETINE [Suspect]
     Active Substance: FLUOXETINE HYDROCHLORIDE
  615. FLUOXETINE [Suspect]
     Active Substance: FLUOXETINE HYDROCHLORIDE
  616. FLUOXETINE [Suspect]
     Active Substance: FLUOXETINE HYDROCHLORIDE
  617. FLUOXETINE [Suspect]
     Active Substance: FLUOXETINE HYDROCHLORIDE
  618. FLUOXETINE [Suspect]
     Active Substance: FLUOXETINE HYDROCHLORIDE
  619. FLUOXETINE [Suspect]
     Active Substance: FLUOXETINE HYDROCHLORIDE
  620. FLUOXETINE [Suspect]
     Active Substance: FLUOXETINE HYDROCHLORIDE
  621. FLUOXETINE [Suspect]
     Active Substance: FLUOXETINE HYDROCHLORIDE
  622. FLUOXETINE [Suspect]
     Active Substance: FLUOXETINE HYDROCHLORIDE
  623. FLUOXETINE [Suspect]
     Active Substance: FLUOXETINE HYDROCHLORIDE
  624. FLUOXETINE [Suspect]
     Active Substance: FLUOXETINE HYDROCHLORIDE
  625. FLUOXETINE [Suspect]
     Active Substance: FLUOXETINE HYDROCHLORIDE
  626. FLUOXETINE [Suspect]
     Active Substance: FLUOXETINE HYDROCHLORIDE
  627. FLUOXETINE [Suspect]
     Active Substance: FLUOXETINE HYDROCHLORIDE
  628. FLUOXETINE [Suspect]
     Active Substance: FLUOXETINE HYDROCHLORIDE
  629. FLUOXETINE [Suspect]
     Active Substance: FLUOXETINE HYDROCHLORIDE
  630. FLUOXETINE [Suspect]
     Active Substance: FLUOXETINE HYDROCHLORIDE
  631. FLUOXETINE [Suspect]
     Active Substance: FLUOXETINE HYDROCHLORIDE
  632. FLUOXETINE [Suspect]
     Active Substance: FLUOXETINE HYDROCHLORIDE
  633. FLUOXETINE [Suspect]
     Active Substance: FLUOXETINE HYDROCHLORIDE
  634. FLUOXETINE [Suspect]
     Active Substance: FLUOXETINE HYDROCHLORIDE
  635. FLUOXETINE [Suspect]
     Active Substance: FLUOXETINE HYDROCHLORIDE
  636. FLUOXETINE [Suspect]
     Active Substance: FLUOXETINE HYDROCHLORIDE
  637. FLUOXETINE [Suspect]
     Active Substance: FLUOXETINE HYDROCHLORIDE
  638. FLUOXETINE [Suspect]
     Active Substance: FLUOXETINE HYDROCHLORIDE
  639. FLUOXETINE [Suspect]
     Active Substance: FLUOXETINE HYDROCHLORIDE
  640. FLUOXETINE [Suspect]
     Active Substance: FLUOXETINE HYDROCHLORIDE
  641. FLUOXETINE [Suspect]
     Active Substance: FLUOXETINE HYDROCHLORIDE
  642. FLUOXETINE [Suspect]
     Active Substance: FLUOXETINE HYDROCHLORIDE
  643. FLUOXETINE [Suspect]
     Active Substance: FLUOXETINE HYDROCHLORIDE
  644. FLUOXETINE [Suspect]
     Active Substance: FLUOXETINE HYDROCHLORIDE
  645. FLUOXETINE [Suspect]
     Active Substance: FLUOXETINE HYDROCHLORIDE
  646. FLUOXETINE [Suspect]
     Active Substance: FLUOXETINE HYDROCHLORIDE
  647. FLUOXETINE [Suspect]
     Active Substance: FLUOXETINE HYDROCHLORIDE
  648. FLUOXETINE [Suspect]
     Active Substance: FLUOXETINE HYDROCHLORIDE
  649. FLUOXETINE [Suspect]
     Active Substance: FLUOXETINE HYDROCHLORIDE
  650. FLUOXETINE [Suspect]
     Active Substance: FLUOXETINE HYDROCHLORIDE
  651. FLUOXETINE [Suspect]
     Active Substance: FLUOXETINE HYDROCHLORIDE
  652. FLUOXETINE [Suspect]
     Active Substance: FLUOXETINE HYDROCHLORIDE
  653. FLUOXETINE [Suspect]
     Active Substance: FLUOXETINE HYDROCHLORIDE
  654. FLUOXETINE [Suspect]
     Active Substance: FLUOXETINE HYDROCHLORIDE
  655. FLUOXETINE [Suspect]
     Active Substance: FLUOXETINE HYDROCHLORIDE
  656. FLUOXETINE [Suspect]
     Active Substance: FLUOXETINE HYDROCHLORIDE
  657. FLUOXETINE [Suspect]
     Active Substance: FLUOXETINE HYDROCHLORIDE
  658. FLUOXETINE [Suspect]
     Active Substance: FLUOXETINE HYDROCHLORIDE
  659. FLUOXETINE [Suspect]
     Active Substance: FLUOXETINE HYDROCHLORIDE
  660. FLUOXETINE [Suspect]
     Active Substance: FLUOXETINE HYDROCHLORIDE
  661. FLUOXETINE [Suspect]
     Active Substance: FLUOXETINE HYDROCHLORIDE
  662. FLUOXETINE [Suspect]
     Active Substance: FLUOXETINE HYDROCHLORIDE
  663. FLUOXETINE [Suspect]
     Active Substance: FLUOXETINE HYDROCHLORIDE
  664. FLUOXETINE [Suspect]
     Active Substance: FLUOXETINE HYDROCHLORIDE
  665. FLUOXETINE [Suspect]
     Active Substance: FLUOXETINE HYDROCHLORIDE
  666. FLUOXETINE [Suspect]
     Active Substance: FLUOXETINE HYDROCHLORIDE
  667. FLUOXETINE [Suspect]
     Active Substance: FLUOXETINE HYDROCHLORIDE
  668. FLUOXETINE [Suspect]
     Active Substance: FLUOXETINE HYDROCHLORIDE
  669. FLUOXETINE [Suspect]
     Active Substance: FLUOXETINE HYDROCHLORIDE
  670. FLUOXETINE [Suspect]
     Active Substance: FLUOXETINE HYDROCHLORIDE
  671. FLUOXETINE [Suspect]
     Active Substance: FLUOXETINE HYDROCHLORIDE
  672. FLUOXETINE [Suspect]
     Active Substance: FLUOXETINE HYDROCHLORIDE
  673. FLUOXETINE [Suspect]
     Active Substance: FLUOXETINE HYDROCHLORIDE
  674. FLUOXETINE [Suspect]
     Active Substance: FLUOXETINE HYDROCHLORIDE
  675. FLUOXETINE [Suspect]
     Active Substance: FLUOXETINE HYDROCHLORIDE
  676. FLUOXETINE [Suspect]
     Active Substance: FLUOXETINE HYDROCHLORIDE
  677. FLUOXETINE [Suspect]
     Active Substance: FLUOXETINE HYDROCHLORIDE
  678. FLUOXETINE [Suspect]
     Active Substance: FLUOXETINE HYDROCHLORIDE
  679. FLUOXETINE [Suspect]
     Active Substance: FLUOXETINE HYDROCHLORIDE
  680. FLUOXETINE [Suspect]
     Active Substance: FLUOXETINE HYDROCHLORIDE
  681. FLUOXETINE [Suspect]
     Active Substance: FLUOXETINE HYDROCHLORIDE
  682. FLUOXETINE [Suspect]
     Active Substance: FLUOXETINE HYDROCHLORIDE
  683. FLUOXETINE [Suspect]
     Active Substance: FLUOXETINE HYDROCHLORIDE
  684. FLUOXETINE [Suspect]
     Active Substance: FLUOXETINE HYDROCHLORIDE
  685. FLUOXETINE [Suspect]
     Active Substance: FLUOXETINE HYDROCHLORIDE
  686. FLUOXETINE [Suspect]
     Active Substance: FLUOXETINE HYDROCHLORIDE
  687. FLUOXETINE [Suspect]
     Active Substance: FLUOXETINE HYDROCHLORIDE
  688. FLUOXETINE [Suspect]
     Active Substance: FLUOXETINE HYDROCHLORIDE
  689. FLUOXETINE [Suspect]
     Active Substance: FLUOXETINE HYDROCHLORIDE
  690. FLUOXETINE [Suspect]
     Active Substance: FLUOXETINE HYDROCHLORIDE
  691. FLUOXETINE [Suspect]
     Active Substance: FLUOXETINE HYDROCHLORIDE
  692. FLUOXETINE [Suspect]
     Active Substance: FLUOXETINE HYDROCHLORIDE
  693. FLUOXETINE [Suspect]
     Active Substance: FLUOXETINE HYDROCHLORIDE
  694. FLUOXETINE [Suspect]
     Active Substance: FLUOXETINE HYDROCHLORIDE
  695. FLUOXETINE [Suspect]
     Active Substance: FLUOXETINE HYDROCHLORIDE
  696. FLUOXETINE [Suspect]
     Active Substance: FLUOXETINE HYDROCHLORIDE
  697. FLUOXETINE [Suspect]
     Active Substance: FLUOXETINE HYDROCHLORIDE
  698. FLUOXETINE [Suspect]
     Active Substance: FLUOXETINE HYDROCHLORIDE
  699. FLUOXETINE [Suspect]
     Active Substance: FLUOXETINE HYDROCHLORIDE
  700. FLUOXETINE [Suspect]
     Active Substance: FLUOXETINE HYDROCHLORIDE
  701. FLUOXETINE [Suspect]
     Active Substance: FLUOXETINE HYDROCHLORIDE
  702. FLUOXETINE [Suspect]
     Active Substance: FLUOXETINE HYDROCHLORIDE
  703. FLUOXETINE [Suspect]
     Active Substance: FLUOXETINE HYDROCHLORIDE
  704. FLUOXETINE [Suspect]
     Active Substance: FLUOXETINE HYDROCHLORIDE
  705. FLUOXETINE [Suspect]
     Active Substance: FLUOXETINE HYDROCHLORIDE
  706. FLUOXETINE [Suspect]
     Active Substance: FLUOXETINE HYDROCHLORIDE
  707. FLUOXETINE [Suspect]
     Active Substance: FLUOXETINE HYDROCHLORIDE
  708. FLUOXETINE [Suspect]
     Active Substance: FLUOXETINE HYDROCHLORIDE
  709. FLUOXETINE [Suspect]
     Active Substance: FLUOXETINE HYDROCHLORIDE
  710. FLUOXETINE [Suspect]
     Active Substance: FLUOXETINE HYDROCHLORIDE
  711. FLUOXETINE [Suspect]
     Active Substance: FLUOXETINE HYDROCHLORIDE
  712. FLUOXETINE [Suspect]
     Active Substance: FLUOXETINE HYDROCHLORIDE
  713. FLUOXETINE [Suspect]
     Active Substance: FLUOXETINE HYDROCHLORIDE
  714. FLUOXETINE [Suspect]
     Active Substance: FLUOXETINE HYDROCHLORIDE
  715. FLUOXETINE [Suspect]
     Active Substance: FLUOXETINE HYDROCHLORIDE
  716. FLUOXETINE [Suspect]
     Active Substance: FLUOXETINE HYDROCHLORIDE
  717. FLUOXETINE [Suspect]
     Active Substance: FLUOXETINE HYDROCHLORIDE
  718. FLUOXETINE [Suspect]
     Active Substance: FLUOXETINE HYDROCHLORIDE
  719. FLUOXETINE [Suspect]
     Active Substance: FLUOXETINE HYDROCHLORIDE
  720. FLUOXETINE [Suspect]
     Active Substance: FLUOXETINE HYDROCHLORIDE
  721. FLUOXETINE [Suspect]
     Active Substance: FLUOXETINE HYDROCHLORIDE
  722. FLUOXETINE [Suspect]
     Active Substance: FLUOXETINE HYDROCHLORIDE
  723. FLUOXETINE [Suspect]
     Active Substance: FLUOXETINE HYDROCHLORIDE
  724. FLUOXETINE [Suspect]
     Active Substance: FLUOXETINE HYDROCHLORIDE
  725. FLUOXETINE [Suspect]
     Active Substance: FLUOXETINE HYDROCHLORIDE
  726. FLUOXETINE [Suspect]
     Active Substance: FLUOXETINE HYDROCHLORIDE
  727. FLUOXETINE [Suspect]
     Active Substance: FLUOXETINE HYDROCHLORIDE
  728. FLUOXETINE [Suspect]
     Active Substance: FLUOXETINE HYDROCHLORIDE
  729. FLUOXETINE [Suspect]
     Active Substance: FLUOXETINE HYDROCHLORIDE
  730. FLUOXETINE [Suspect]
     Active Substance: FLUOXETINE HYDROCHLORIDE
  731. FLUOXETINE [Suspect]
     Active Substance: FLUOXETINE HYDROCHLORIDE
  732. FLUOXETINE [Suspect]
     Active Substance: FLUOXETINE HYDROCHLORIDE
  733. FLUOXETINE [Suspect]
     Active Substance: FLUOXETINE HYDROCHLORIDE
  734. FLUOXETINE [Suspect]
     Active Substance: FLUOXETINE HYDROCHLORIDE
  735. FLUOXETINE [Suspect]
     Active Substance: FLUOXETINE HYDROCHLORIDE
  736. FLUOXETINE [Suspect]
     Active Substance: FLUOXETINE HYDROCHLORIDE
  737. FLUOXETINE [Suspect]
     Active Substance: FLUOXETINE HYDROCHLORIDE
  738. FLUOXETINE [Suspect]
     Active Substance: FLUOXETINE HYDROCHLORIDE
  739. FLUOXETINE [Suspect]
     Active Substance: FLUOXETINE HYDROCHLORIDE
  740. FLUOXETINE [Suspect]
     Active Substance: FLUOXETINE HYDROCHLORIDE
  741. FLUOXETINE [Suspect]
     Active Substance: FLUOXETINE HYDROCHLORIDE
  742. FLUOXETINE [Suspect]
     Active Substance: FLUOXETINE HYDROCHLORIDE
  743. FLUOXETINE [Suspect]
     Active Substance: FLUOXETINE HYDROCHLORIDE
  744. FLUOXETINE [Suspect]
     Active Substance: FLUOXETINE HYDROCHLORIDE
  745. FLUOXETINE [Suspect]
     Active Substance: FLUOXETINE HYDROCHLORIDE
  746. FLUOXETINE [Suspect]
     Active Substance: FLUOXETINE HYDROCHLORIDE
  747. FLUOXETINE [Suspect]
     Active Substance: FLUOXETINE HYDROCHLORIDE
  748. FLUOXETINE [Suspect]
     Active Substance: FLUOXETINE HYDROCHLORIDE
  749. FLUOXETINE [Suspect]
     Active Substance: FLUOXETINE HYDROCHLORIDE
  750. FLUOXETINE [Suspect]
     Active Substance: FLUOXETINE HYDROCHLORIDE
  751. FLUOXETINE [Suspect]
     Active Substance: FLUOXETINE HYDROCHLORIDE
  752. FLUOXETINE [Suspect]
     Active Substance: FLUOXETINE HYDROCHLORIDE
  753. FLUOXETINE [Suspect]
     Active Substance: FLUOXETINE HYDROCHLORIDE
  754. FLUOXETINE [Suspect]
     Active Substance: FLUOXETINE HYDROCHLORIDE
  755. FLUOXETINE [Suspect]
     Active Substance: FLUOXETINE HYDROCHLORIDE
  756. FLUOXETINE [Suspect]
     Active Substance: FLUOXETINE HYDROCHLORIDE
  757. FLUOXETINE [Suspect]
     Active Substance: FLUOXETINE HYDROCHLORIDE
  758. FLUOXETINE [Suspect]
     Active Substance: FLUOXETINE HYDROCHLORIDE
  759. FLUOXETINE [Suspect]
     Active Substance: FLUOXETINE HYDROCHLORIDE
  760. FLUOXETINE [Suspect]
     Active Substance: FLUOXETINE HYDROCHLORIDE
  761. FLUOXETINE [Suspect]
     Active Substance: FLUOXETINE HYDROCHLORIDE
  762. FLUOXETINE [Suspect]
     Active Substance: FLUOXETINE HYDROCHLORIDE
  763. FLUOXETINE [Suspect]
     Active Substance: FLUOXETINE HYDROCHLORIDE
  764. FLUOXETINE [Suspect]
     Active Substance: FLUOXETINE HYDROCHLORIDE
  765. FLUOXETINE [Suspect]
     Active Substance: FLUOXETINE HYDROCHLORIDE
  766. FLUOXETINE [Suspect]
     Active Substance: FLUOXETINE HYDROCHLORIDE
  767. FLUOXETINE [Suspect]
     Active Substance: FLUOXETINE HYDROCHLORIDE
  768. FLUOXETINE [Suspect]
     Active Substance: FLUOXETINE HYDROCHLORIDE
  769. FLUOXETINE [Suspect]
     Active Substance: FLUOXETINE HYDROCHLORIDE
  770. FLUOXETINE [Suspect]
     Active Substance: FLUOXETINE HYDROCHLORIDE
  771. FLUOXETINE [Suspect]
     Active Substance: FLUOXETINE HYDROCHLORIDE
  772. FLUOXETINE [Suspect]
     Active Substance: FLUOXETINE HYDROCHLORIDE
  773. FLUOXETINE [Suspect]
     Active Substance: FLUOXETINE HYDROCHLORIDE
  774. FLUOXETINE [Suspect]
     Active Substance: FLUOXETINE HYDROCHLORIDE
  775. FLUOXETINE [Suspect]
     Active Substance: FLUOXETINE HYDROCHLORIDE
  776. FLUOXETINE [Suspect]
     Active Substance: FLUOXETINE HYDROCHLORIDE
  777. FLUOXETINE [Suspect]
     Active Substance: FLUOXETINE HYDROCHLORIDE
  778. FLUOXETINE [Suspect]
     Active Substance: FLUOXETINE HYDROCHLORIDE
  779. FLUOXETINE [Suspect]
     Active Substance: FLUOXETINE HYDROCHLORIDE
  780. FLUOXETINE [Suspect]
     Active Substance: FLUOXETINE HYDROCHLORIDE
  781. FLUOXETINE [Suspect]
     Active Substance: FLUOXETINE HYDROCHLORIDE
  782. FLUOXETINE [Suspect]
     Active Substance: FLUOXETINE HYDROCHLORIDE
  783. FLUOXETINE [Suspect]
     Active Substance: FLUOXETINE HYDROCHLORIDE
  784. FLUOXETINE [Suspect]
     Active Substance: FLUOXETINE HYDROCHLORIDE
  785. FLUOXETINE [Suspect]
     Active Substance: FLUOXETINE HYDROCHLORIDE
  786. FLUOXETINE [Suspect]
     Active Substance: FLUOXETINE HYDROCHLORIDE
  787. FLUOXETINE [Suspect]
     Active Substance: FLUOXETINE HYDROCHLORIDE
  788. FLUOXETINE [Suspect]
     Active Substance: FLUOXETINE HYDROCHLORIDE
  789. FLUOXETINE [Suspect]
     Active Substance: FLUOXETINE HYDROCHLORIDE
  790. FLUOXETINE [Suspect]
     Active Substance: FLUOXETINE HYDROCHLORIDE
  791. FLUOXETINE [Suspect]
     Active Substance: FLUOXETINE HYDROCHLORIDE
  792. FLUOXETINE [Suspect]
     Active Substance: FLUOXETINE HYDROCHLORIDE
  793. FLUOXETINE [Suspect]
     Active Substance: FLUOXETINE HYDROCHLORIDE
  794. FLUOXETINE [Suspect]
     Active Substance: FLUOXETINE HYDROCHLORIDE
  795. FLUOXETINE [Suspect]
     Active Substance: FLUOXETINE HYDROCHLORIDE
  796. FLUOXETINE [Suspect]
     Active Substance: FLUOXETINE HYDROCHLORIDE
  797. FLUOXETINE [Suspect]
     Active Substance: FLUOXETINE HYDROCHLORIDE
  798. FLUOXETINE [Suspect]
     Active Substance: FLUOXETINE HYDROCHLORIDE
  799. FLUOXETINE [Suspect]
     Active Substance: FLUOXETINE HYDROCHLORIDE
  800. FLUOXETINE [Suspect]
     Active Substance: FLUOXETINE HYDROCHLORIDE
  801. FLUOXETINE [Suspect]
     Active Substance: FLUOXETINE HYDROCHLORIDE
  802. FLUOXETINE [Suspect]
     Active Substance: FLUOXETINE HYDROCHLORIDE
  803. FLUOXETINE [Suspect]
     Active Substance: FLUOXETINE HYDROCHLORIDE
  804. FLUOXETINE [Suspect]
     Active Substance: FLUOXETINE HYDROCHLORIDE
  805. FLUOXETINE [Suspect]
     Active Substance: FLUOXETINE HYDROCHLORIDE
  806. FLUOXETINE [Suspect]
     Active Substance: FLUOXETINE HYDROCHLORIDE
  807. FLUOXETINE [Suspect]
     Active Substance: FLUOXETINE HYDROCHLORIDE
  808. FLUOXETINE [Suspect]
     Active Substance: FLUOXETINE HYDROCHLORIDE
  809. FLUOXETINE [Suspect]
     Active Substance: FLUOXETINE HYDROCHLORIDE
  810. FLUOXETINE [Suspect]
     Active Substance: FLUOXETINE HYDROCHLORIDE
  811. FLUOXETINE [Suspect]
     Active Substance: FLUOXETINE HYDROCHLORIDE
  812. FLUOXETINE [Suspect]
     Active Substance: FLUOXETINE HYDROCHLORIDE
  813. FLUOXETINE [Suspect]
     Active Substance: FLUOXETINE HYDROCHLORIDE
  814. FLUOXETINE [Suspect]
     Active Substance: FLUOXETINE HYDROCHLORIDE
  815. FLUOXETINE [Suspect]
     Active Substance: FLUOXETINE HYDROCHLORIDE
  816. FLUOXETINE [Suspect]
     Active Substance: FLUOXETINE HYDROCHLORIDE
  817. FLUOXETINE [Suspect]
     Active Substance: FLUOXETINE HYDROCHLORIDE
  818. FLUOXETINE [Suspect]
     Active Substance: FLUOXETINE HYDROCHLORIDE
  819. FLUOXETINE [Suspect]
     Active Substance: FLUOXETINE HYDROCHLORIDE
  820. FLUOXETINE [Suspect]
     Active Substance: FLUOXETINE HYDROCHLORIDE
  821. FLUOXETINE [Suspect]
     Active Substance: FLUOXETINE HYDROCHLORIDE
  822. FLUOXETINE [Suspect]
     Active Substance: FLUOXETINE HYDROCHLORIDE
  823. FLUOXETINE [Suspect]
     Active Substance: FLUOXETINE HYDROCHLORIDE
  824. FLUOXETINE [Suspect]
     Active Substance: FLUOXETINE HYDROCHLORIDE
  825. FLUOXETINE [Suspect]
     Active Substance: FLUOXETINE HYDROCHLORIDE
  826. FLUOXETINE [Suspect]
     Active Substance: FLUOXETINE HYDROCHLORIDE
  827. FLUOXETINE [Suspect]
     Active Substance: FLUOXETINE HYDROCHLORIDE
  828. FLUOXETINE [Suspect]
     Active Substance: FLUOXETINE HYDROCHLORIDE
  829. FLUOXETINE [Suspect]
     Active Substance: FLUOXETINE HYDROCHLORIDE
  830. FLUOXETINE [Suspect]
     Active Substance: FLUOXETINE HYDROCHLORIDE
  831. FLUOXETINE [Suspect]
     Active Substance: FLUOXETINE HYDROCHLORIDE
  832. FLUOXETINE [Suspect]
     Active Substance: FLUOXETINE HYDROCHLORIDE
     Route: 061
  833. FLUOXETINE [Suspect]
     Active Substance: FLUOXETINE HYDROCHLORIDE
     Route: 061
  834. FLUOXETINE [Suspect]
     Active Substance: FLUOXETINE HYDROCHLORIDE
  835. FLUOXETINE [Suspect]
     Active Substance: FLUOXETINE HYDROCHLORIDE
  836. FLUOXETINE [Suspect]
     Active Substance: FLUOXETINE HYDROCHLORIDE
     Route: 047
  837. FLUOXETINE [Suspect]
     Active Substance: FLUOXETINE HYDROCHLORIDE
     Route: 061
  838. FLUOXETINE [Suspect]
     Active Substance: FLUOXETINE HYDROCHLORIDE
     Route: 065
  839. FLUOXETINE [Suspect]
     Active Substance: FLUOXETINE HYDROCHLORIDE
     Route: 050
  840. FLUOXETINE [Suspect]
     Active Substance: FLUOXETINE HYDROCHLORIDE
     Route: 065
  841. FLUOXETINE [Suspect]
     Active Substance: FLUOXETINE HYDROCHLORIDE
     Route: 061
  842. FLUOXETINE [Suspect]
     Active Substance: FLUOXETINE HYDROCHLORIDE
     Route: 065
  843. FLUOXETINE [Suspect]
     Active Substance: FLUOXETINE HYDROCHLORIDE
     Route: 065
  844. FLUOXETINE [Suspect]
     Active Substance: FLUOXETINE HYDROCHLORIDE
     Route: 061
  845. FLUOXETINE [Suspect]
     Active Substance: FLUOXETINE HYDROCHLORIDE
     Route: 065
  846. FLUOXETINE [Suspect]
     Active Substance: FLUOXETINE HYDROCHLORIDE
     Route: 065
  847. FLUOXETINE [Suspect]
     Active Substance: FLUOXETINE HYDROCHLORIDE
     Route: 065
  848. FLUOXETINE [Suspect]
     Active Substance: FLUOXETINE HYDROCHLORIDE
     Route: 050
  849. FLUOXETINE [Suspect]
     Active Substance: FLUOXETINE HYDROCHLORIDE
     Route: 065
  850. FLUOXETINE [Suspect]
     Active Substance: FLUOXETINE HYDROCHLORIDE
     Route: 047
  851. FLUOXETINE [Suspect]
     Active Substance: FLUOXETINE HYDROCHLORIDE
     Route: 061
  852. FLUOXETINE [Suspect]
     Active Substance: FLUOXETINE HYDROCHLORIDE
  853. FLUOXETINE [Suspect]
     Active Substance: FLUOXETINE HYDROCHLORIDE
  854. FLUOXETINE [Suspect]
     Active Substance: FLUOXETINE HYDROCHLORIDE
  855. FLUOXETINE [Suspect]
     Active Substance: FLUOXETINE HYDROCHLORIDE
  856. FLUOXETINE [Suspect]
     Active Substance: FLUOXETINE HYDROCHLORIDE
     Route: 065
  857. FLUOXETINE [Suspect]
     Active Substance: FLUOXETINE HYDROCHLORIDE
  858. FLUOXETINE [Suspect]
     Active Substance: FLUOXETINE HYDROCHLORIDE
  859. FLUOXETINE [Suspect]
     Active Substance: FLUOXETINE HYDROCHLORIDE
     Route: 065
  860. FLUOXETINE [Suspect]
     Active Substance: FLUOXETINE HYDROCHLORIDE
  861. FLUOXETINE [Suspect]
     Active Substance: FLUOXETINE HYDROCHLORIDE
  862. FLUOXETINE [Suspect]
     Active Substance: FLUOXETINE HYDROCHLORIDE
  863. FLUOXETINE [Suspect]
     Active Substance: FLUOXETINE HYDROCHLORIDE
  864. FLUOXETINE [Suspect]
     Active Substance: FLUOXETINE HYDROCHLORIDE
  865. FLUOXETINE [Suspect]
     Active Substance: FLUOXETINE HYDROCHLORIDE
  866. FLUOXETINE [Suspect]
     Active Substance: FLUOXETINE HYDROCHLORIDE
  867. FLUOXETINE [Suspect]
     Active Substance: FLUOXETINE HYDROCHLORIDE
  868. FLUOXETINE [Suspect]
     Active Substance: FLUOXETINE HYDROCHLORIDE
  869. FLUOXETINE [Suspect]
     Active Substance: FLUOXETINE HYDROCHLORIDE
  870. FLUOXETINE [Suspect]
     Active Substance: FLUOXETINE HYDROCHLORIDE
  871. FLUOXETINE [Suspect]
     Active Substance: FLUOXETINE HYDROCHLORIDE
  872. FLUOXETINE [Suspect]
     Active Substance: FLUOXETINE HYDROCHLORIDE
  873. FLUOXETINE [Suspect]
     Active Substance: FLUOXETINE HYDROCHLORIDE
  874. FLUOXETINE [Suspect]
     Active Substance: FLUOXETINE HYDROCHLORIDE
  875. FLUOXETINE [Suspect]
     Active Substance: FLUOXETINE HYDROCHLORIDE
  876. FLUOXETINE [Suspect]
     Active Substance: FLUOXETINE HYDROCHLORIDE
  877. FLUOXETINE [Suspect]
     Active Substance: FLUOXETINE HYDROCHLORIDE
  878. FLUOXETINE [Suspect]
     Active Substance: FLUOXETINE HYDROCHLORIDE
  879. FLUOXETINE [Suspect]
     Active Substance: FLUOXETINE HYDROCHLORIDE
  880. FLUOXETINE [Suspect]
     Active Substance: FLUOXETINE HYDROCHLORIDE
  881. FLUOXETINE [Suspect]
     Active Substance: FLUOXETINE HYDROCHLORIDE
  882. FLUOXETINE [Suspect]
     Active Substance: FLUOXETINE HYDROCHLORIDE
  883. FLUOXETINE [Suspect]
     Active Substance: FLUOXETINE HYDROCHLORIDE
  884. FLUOXETINE [Suspect]
     Active Substance: FLUOXETINE HYDROCHLORIDE
  885. FLUOXETINE [Suspect]
     Active Substance: FLUOXETINE HYDROCHLORIDE
  886. FLUOXETINE [Suspect]
     Active Substance: FLUOXETINE HYDROCHLORIDE
  887. FLUOXETINE [Suspect]
     Active Substance: FLUOXETINE HYDROCHLORIDE
  888. FLUOXETINE [Suspect]
     Active Substance: FLUOXETINE HYDROCHLORIDE
  889. FLUOXETINE [Suspect]
     Active Substance: FLUOXETINE HYDROCHLORIDE
  890. FLUOXETINE [Suspect]
     Active Substance: FLUOXETINE HYDROCHLORIDE
  891. FLUOXETINE [Suspect]
     Active Substance: FLUOXETINE HYDROCHLORIDE
  892. FLUOXETINE [Suspect]
     Active Substance: FLUOXETINE HYDROCHLORIDE
     Route: 065
  893. FLUOXETINE [Suspect]
     Active Substance: FLUOXETINE HYDROCHLORIDE
  894. FLUOXETINE [Suspect]
     Active Substance: FLUOXETINE HYDROCHLORIDE
  895. FLUOXETINE [Suspect]
     Active Substance: FLUOXETINE HYDROCHLORIDE
     Route: 065
  896. FLUOXETINE [Suspect]
     Active Substance: FLUOXETINE HYDROCHLORIDE
  897. FLUOXETINE [Suspect]
     Active Substance: FLUOXETINE HYDROCHLORIDE
  898. FLUOXETINE [Suspect]
     Active Substance: FLUOXETINE HYDROCHLORIDE
  899. FLUOXETINE [Suspect]
     Active Substance: FLUOXETINE HYDROCHLORIDE
  900. FLUOXETINE [Suspect]
     Active Substance: FLUOXETINE HYDROCHLORIDE
  901. FLUOXETINE [Suspect]
     Active Substance: FLUOXETINE HYDROCHLORIDE
  902. FLUOXETINE [Suspect]
     Active Substance: FLUOXETINE HYDROCHLORIDE
  903. FLUOXETINE [Suspect]
     Active Substance: FLUOXETINE HYDROCHLORIDE
  904. FLUOXETINE [Suspect]
     Active Substance: FLUOXETINE HYDROCHLORIDE
     Route: 065
  905. FLUOXETINE [Suspect]
     Active Substance: FLUOXETINE HYDROCHLORIDE
  906. FLUOXETINE [Suspect]
     Active Substance: FLUOXETINE HYDROCHLORIDE
  907. FLUOXETINE [Suspect]
     Active Substance: FLUOXETINE HYDROCHLORIDE
  908. FLUOXETINE [Suspect]
     Active Substance: FLUOXETINE HYDROCHLORIDE
  909. FLUOXETINE [Suspect]
     Active Substance: FLUOXETINE HYDROCHLORIDE
  910. FLUOXETINE [Suspect]
     Active Substance: FLUOXETINE HYDROCHLORIDE
  911. FLUOXETINE [Suspect]
     Active Substance: FLUOXETINE HYDROCHLORIDE
  912. FLUOXETINE [Suspect]
     Active Substance: FLUOXETINE HYDROCHLORIDE
  913. FLUOXETINE [Suspect]
     Active Substance: FLUOXETINE HYDROCHLORIDE
  914. FLUOXETINE [Suspect]
     Active Substance: FLUOXETINE HYDROCHLORIDE
  915. FLUOXETINE [Suspect]
     Active Substance: FLUOXETINE HYDROCHLORIDE
  916. FLUOXETINE [Suspect]
     Active Substance: FLUOXETINE HYDROCHLORIDE
  917. FLUOXETINE [Suspect]
     Active Substance: FLUOXETINE HYDROCHLORIDE
  918. FLUOXETINE [Suspect]
     Active Substance: FLUOXETINE HYDROCHLORIDE
  919. FLUOXETINE [Suspect]
     Active Substance: FLUOXETINE HYDROCHLORIDE
  920. FLUOXETINE [Suspect]
     Active Substance: FLUOXETINE HYDROCHLORIDE
  921. FLUOXETINE [Suspect]
     Active Substance: FLUOXETINE HYDROCHLORIDE
  922. FLUOXETINE [Suspect]
     Active Substance: FLUOXETINE HYDROCHLORIDE
  923. FLUOXETINE [Suspect]
     Active Substance: FLUOXETINE HYDROCHLORIDE
  924. FLUOXETINE [Suspect]
     Active Substance: FLUOXETINE HYDROCHLORIDE
  925. FLUOXETINE [Suspect]
     Active Substance: FLUOXETINE HYDROCHLORIDE
  926. FLUOXETINE [Suspect]
     Active Substance: FLUOXETINE HYDROCHLORIDE
  927. FLUOXETINE [Suspect]
     Active Substance: FLUOXETINE HYDROCHLORIDE
  928. FLUOXETINE [Suspect]
     Active Substance: FLUOXETINE HYDROCHLORIDE
  929. FLUOXETINE [Suspect]
     Active Substance: FLUOXETINE HYDROCHLORIDE
  930. FLUOXETINE [Suspect]
     Active Substance: FLUOXETINE HYDROCHLORIDE
  931. FLUOXETINE [Suspect]
     Active Substance: FLUOXETINE HYDROCHLORIDE
  932. FLUOXETINE [Suspect]
     Active Substance: FLUOXETINE HYDROCHLORIDE
  933. FLUOXETINE [Suspect]
     Active Substance: FLUOXETINE HYDROCHLORIDE
  934. FLUOXETINE [Suspect]
     Active Substance: FLUOXETINE HYDROCHLORIDE
  935. FLUOXETINE [Suspect]
     Active Substance: FLUOXETINE HYDROCHLORIDE
  936. FLUOXETINE [Suspect]
     Active Substance: FLUOXETINE HYDROCHLORIDE
  937. FLUOXETINE [Suspect]
     Active Substance: FLUOXETINE HYDROCHLORIDE
  938. FLUOXETINE [Suspect]
     Active Substance: FLUOXETINE HYDROCHLORIDE
  939. FLUOXETINE [Suspect]
     Active Substance: FLUOXETINE HYDROCHLORIDE
     Route: 065
  940. HYRIMOZ [Suspect]
     Active Substance: ADALIMUMAB-ADAZ
     Indication: Psoriasis
     Route: 058
     Dates: start: 20231004, end: 20231025
  941. HYRIMOZ [Suspect]
     Active Substance: ADALIMUMAB-ADAZ
     Route: 058
     Dates: start: 20231004, end: 20231025
  942. HYRIMOZ [Suspect]
     Active Substance: ADALIMUMAB-ADAZ
     Route: 058
     Dates: end: 20231025
  943. HYRIMOZ [Suspect]
     Active Substance: ADALIMUMAB-ADAZ
     Route: 058
     Dates: start: 20231004, end: 20231025
  944. HYRIMOZ [Suspect]
     Active Substance: ADALIMUMAB-ADAZ
     Route: 058
     Dates: end: 20231025
  945. HYRIMOZ [Suspect]
     Active Substance: ADALIMUMAB-ADAZ
     Route: 058
     Dates: start: 20231004, end: 20231025
  946. HYRIMOZ [Suspect]
     Active Substance: ADALIMUMAB-ADAZ
     Route: 058
     Dates: start: 20231004
  947. HYRIMOZ [Suspect]
     Active Substance: ADALIMUMAB-ADAZ
     Route: 058
     Dates: start: 20231004, end: 20231025
  948. HYRIMOZ [Suspect]
     Active Substance: ADALIMUMAB-ADAZ
     Route: 058
     Dates: start: 20231004, end: 20231025
  949. HYRIMOZ [Suspect]
     Active Substance: ADALIMUMAB-ADAZ
     Route: 058
     Dates: start: 20231004, end: 20231025
  950. HYRIMOZ [Suspect]
     Active Substance: ADALIMUMAB-ADAZ
     Route: 058
     Dates: start: 20231004, end: 20231025
  951. HYRIMOZ [Suspect]
     Active Substance: ADALIMUMAB-ADAZ
     Route: 058
     Dates: start: 20231004
  952. HYRIMOZ [Suspect]
     Active Substance: ADALIMUMAB-ADAZ
     Route: 058
     Dates: start: 20231004
  953. HYRIMOZ [Suspect]
     Active Substance: ADALIMUMAB-ADAZ
     Route: 065
  954. HYRIMOZ [Suspect]
     Active Substance: ADALIMUMAB-ADAZ
     Route: 058
     Dates: start: 20231004, end: 20231025
  955. HYRIMOZ [Suspect]
     Active Substance: ADALIMUMAB-ADAZ
     Route: 065
     Dates: end: 20231025
  956. HYRIMOZ [Suspect]
     Active Substance: ADALIMUMAB-ADAZ
     Route: 058
     Dates: end: 20231025
  957. HYRIMOZ [Suspect]
     Active Substance: ADALIMUMAB-ADAZ
     Route: 058
     Dates: end: 20231025
  958. HYRIMOZ [Suspect]
     Active Substance: ADALIMUMAB-ADAZ
     Route: 058
     Dates: start: 20231004, end: 20231025
  959. HYRIMOZ [Suspect]
     Active Substance: ADALIMUMAB-ADAZ
     Route: 065
  960. HYRIMOZ [Suspect]
     Active Substance: ADALIMUMAB-ADAZ
     Route: 058
     Dates: start: 20231004, end: 20231025
  961. HYRIMOZ [Suspect]
     Active Substance: ADALIMUMAB-ADAZ
     Route: 058
     Dates: start: 20231004, end: 20231025
  962. HYRIMOZ [Suspect]
     Active Substance: ADALIMUMAB-ADAZ
     Route: 058
     Dates: start: 20231004, end: 20231025
  963. HYRIMOZ [Suspect]
     Active Substance: ADALIMUMAB-ADAZ
     Route: 058
     Dates: start: 20231004, end: 20231025
  964. HYRIMOZ [Suspect]
     Active Substance: ADALIMUMAB-ADAZ
     Route: 058
     Dates: start: 20231004, end: 20231025
  965. HYRIMOZ [Suspect]
     Active Substance: ADALIMUMAB-ADAZ
     Route: 058
     Dates: start: 20231004, end: 20231025
  966. HYRIMOZ [Suspect]
     Active Substance: ADALIMUMAB-ADAZ
     Route: 058
     Dates: start: 20231004, end: 20231025
  967. HYRIMOZ [Suspect]
     Active Substance: ADALIMUMAB-ADAZ
     Dates: start: 20231004, end: 20231025
  968. HYRIMOZ [Suspect]
     Active Substance: ADALIMUMAB-ADAZ
     Dates: start: 20231004, end: 20231025
  969. HYRIMOZ [Suspect]
     Active Substance: ADALIMUMAB-ADAZ
     Route: 058
     Dates: start: 20231004, end: 20231025
  970. HYRIMOZ [Suspect]
     Active Substance: ADALIMUMAB-ADAZ
     Dates: start: 20231004, end: 20231025
  971. HYRIMOZ [Suspect]
     Active Substance: ADALIMUMAB-ADAZ
     Dates: start: 20231004, end: 20231025
  972. HYRIMOZ [Suspect]
     Active Substance: ADALIMUMAB-ADAZ
     Dates: start: 20231004, end: 20231025
  973. HYRIMOZ [Suspect]
     Active Substance: ADALIMUMAB-ADAZ
     Dates: start: 20231004, end: 20231025
  974. HYRIMOZ [Suspect]
     Active Substance: ADALIMUMAB-ADAZ
     Dates: start: 20231004, end: 20231025
  975. HYRIMOZ [Suspect]
     Active Substance: ADALIMUMAB-ADAZ
     Route: 058
     Dates: start: 20231004, end: 20231025
  976. HYRIMOZ [Suspect]
     Active Substance: ADALIMUMAB-ADAZ
     Route: 058
     Dates: start: 20231004, end: 20231025
  977. HYRIMOZ [Suspect]
     Active Substance: ADALIMUMAB-ADAZ
     Dates: start: 20231004
  978. HYRIMOZ [Suspect]
     Active Substance: ADALIMUMAB-ADAZ
     Dates: end: 20231025
  979. HYRIMOZ [Suspect]
     Active Substance: ADALIMUMAB-ADAZ
     Dates: start: 20231004, end: 20231025
  980. HYRIMOZ [Suspect]
     Active Substance: ADALIMUMAB-ADAZ
     Dates: start: 20231004, end: 20231025
  981. HYRIMOZ [Suspect]
     Active Substance: ADALIMUMAB-ADAZ
     Dates: start: 20231004, end: 20231025
  982. HYRIMOZ [Suspect]
     Active Substance: ADALIMUMAB-ADAZ
     Dates: start: 20231004
  983. HYRIMOZ [Suspect]
     Active Substance: ADALIMUMAB-ADAZ
     Dates: start: 20231004, end: 20231025
  984. HYRIMOZ [Suspect]
     Active Substance: ADALIMUMAB-ADAZ
     Dates: end: 20231025
  985. HYRIMOZ [Suspect]
     Active Substance: ADALIMUMAB-ADAZ
     Dates: end: 20231025
  986. HYRIMOZ [Suspect]
     Active Substance: ADALIMUMAB-ADAZ
     Dates: start: 20231004, end: 20231025
  987. HYRIMOZ [Suspect]
     Active Substance: ADALIMUMAB-ADAZ
     Dates: start: 20231004
  988. HYRIMOZ [Suspect]
     Active Substance: ADALIMUMAB-ADAZ
     Dates: start: 20231004, end: 20231025
  989. HYRIMOZ [Suspect]
     Active Substance: ADALIMUMAB-ADAZ
     Route: 058
     Dates: start: 20231004, end: 20231025
  990. LERCANIDIPINE [Suspect]
     Active Substance: LERCANIDIPINE
     Indication: Blood cholesterol increased
     Route: 065
  991. LERCANIDIPINE [Suspect]
     Active Substance: LERCANIDIPINE
     Indication: Hypercholesterolaemia
     Route: 065
  992. LERCANIDIPINE [Suspect]
     Active Substance: LERCANIDIPINE
     Indication: Hypertension
     Route: 065
  993. LERCANIDIPINE [Suspect]
     Active Substance: LERCANIDIPINE
     Indication: Depression
     Route: 065
  994. LERCANIDIPINE [Suspect]
     Active Substance: LERCANIDIPINE
     Route: 065
  995. LERCANIDIPINE [Suspect]
     Active Substance: LERCANIDIPINE
  996. LERCANIDIPINE [Suspect]
     Active Substance: LERCANIDIPINE
  997. LERCANIDIPINE [Suspect]
     Active Substance: LERCANIDIPINE
     Route: 065
  998. LERCANIDIPINE [Suspect]
     Active Substance: LERCANIDIPINE
     Route: 065
  999. LERCANIDIPINE [Suspect]
     Active Substance: LERCANIDIPINE
     Route: 065
  1000. LERCANIDIPINE [Suspect]
     Active Substance: LERCANIDIPINE
     Route: 065
  1001. LERCANIDIPINE [Suspect]
     Active Substance: LERCANIDIPINE
     Route: 065
  1002. LERCANIDIPINE [Suspect]
     Active Substance: LERCANIDIPINE
     Route: 065
  1003. LERCANIDIPINE [Suspect]
     Active Substance: LERCANIDIPINE
     Route: 065
  1004. LERCANIDIPINE [Suspect]
     Active Substance: LERCANIDIPINE
     Route: 065
  1005. LERCANIDIPINE [Suspect]
     Active Substance: LERCANIDIPINE
     Route: 065
  1006. LERCANIDIPINE [Suspect]
     Active Substance: LERCANIDIPINE
     Route: 065
  1007. LERCANIDIPINE [Suspect]
     Active Substance: LERCANIDIPINE
     Route: 065
  1008. LERCANIDIPINE [Suspect]
     Active Substance: LERCANIDIPINE
     Route: 065
  1009. LERCANIDIPINE [Suspect]
     Active Substance: LERCANIDIPINE
     Route: 065
  1010. LERCANIDIPINE [Suspect]
     Active Substance: LERCANIDIPINE
     Route: 065
  1011. LERCANIDIPINE [Suspect]
     Active Substance: LERCANIDIPINE
     Route: 065
  1012. LERCANIDIPINE [Suspect]
     Active Substance: LERCANIDIPINE
     Route: 065
  1013. LERCANIDIPINE [Suspect]
     Active Substance: LERCANIDIPINE
     Route: 065
  1014. LERCANIDIPINE [Suspect]
     Active Substance: LERCANIDIPINE
     Route: 065
  1015. LERCANIDIPINE [Suspect]
     Active Substance: LERCANIDIPINE
     Route: 065
  1016. LERCANIDIPINE [Suspect]
     Active Substance: LERCANIDIPINE
     Route: 065
  1017. LERCANIDIPINE [Suspect]
     Active Substance: LERCANIDIPINE
     Route: 065
  1018. LERCANIDIPINE [Suspect]
     Active Substance: LERCANIDIPINE
     Route: 065
  1019. LERCANIDIPINE [Suspect]
     Active Substance: LERCANIDIPINE
     Route: 065
  1020. LERCANIDIPINE [Suspect]
     Active Substance: LERCANIDIPINE
     Route: 065
  1021. LERCANIDIPINE [Suspect]
     Active Substance: LERCANIDIPINE
     Route: 065
  1022. LERCANIDIPINE [Suspect]
     Active Substance: LERCANIDIPINE
     Route: 065
  1023. LERCANIDIPINE [Suspect]
     Active Substance: LERCANIDIPINE
     Route: 065
  1024. LERCANIDIPINE [Suspect]
     Active Substance: LERCANIDIPINE
  1025. LERCANIDIPINE [Suspect]
     Active Substance: LERCANIDIPINE
  1026. LERCANIDIPINE [Suspect]
     Active Substance: LERCANIDIPINE
  1027. LERCANIDIPINE [Suspect]
     Active Substance: LERCANIDIPINE
  1028. LERCANIDIPINE [Suspect]
     Active Substance: LERCANIDIPINE
  1029. LERCANIDIPINE [Suspect]
     Active Substance: LERCANIDIPINE
  1030. LERCANIDIPINE [Suspect]
     Active Substance: LERCANIDIPINE
  1031. LERCANIDIPINE [Suspect]
     Active Substance: LERCANIDIPINE
  1032. LERCANIDIPINE [Suspect]
     Active Substance: LERCANIDIPINE
  1033. LERCANIDIPINE [Suspect]
     Active Substance: LERCANIDIPINE
     Route: 065
  1034. LERCANIDIPINE [Suspect]
     Active Substance: LERCANIDIPINE
     Route: 065
  1035. LERCANIDIPINE [Suspect]
     Active Substance: LERCANIDIPINE
     Route: 065
  1036. LERCANIDIPINE [Suspect]
     Active Substance: LERCANIDIPINE
     Route: 065
  1037. LERCANIDIPINE [Suspect]
     Active Substance: LERCANIDIPINE
     Route: 065
  1038. LERCANIDIPINE [Suspect]
     Active Substance: LERCANIDIPINE
     Route: 065
  1039. LERCANIDIPINE [Suspect]
     Active Substance: LERCANIDIPINE
     Route: 065
  1040. LERCANIDIPINE [Suspect]
     Active Substance: LERCANIDIPINE
     Route: 065
  1041. LERCANIDIPINE [Suspect]
     Active Substance: LERCANIDIPINE
     Route: 065
  1042. LERCANIDIPINE HYDROCHLORIDE [Suspect]
     Active Substance: LERCANIDIPINE HYDROCHLORIDE
     Indication: Hypertension
     Route: 065
  1043. LERCANIDIPINE HYDROCHLORIDE [Suspect]
     Active Substance: LERCANIDIPINE HYDROCHLORIDE
     Indication: Depression
     Route: 065
  1044. LERCANIDIPINE HYDROCHLORIDE [Suspect]
     Active Substance: LERCANIDIPINE HYDROCHLORIDE
     Indication: Blood cholesterol increased
     Route: 065
  1045. LERCANIDIPINE HYDROCHLORIDE [Suspect]
     Active Substance: LERCANIDIPINE HYDROCHLORIDE
     Indication: Hypercholesterolaemia
     Route: 065
  1046. LERCANIDIPINE HYDROCHLORIDE [Suspect]
     Active Substance: LERCANIDIPINE HYDROCHLORIDE
     Indication: Blood cholesterol increased
     Route: 065
  1047. LERCANIDIPINE HYDROCHLORIDE [Suspect]
     Active Substance: LERCANIDIPINE HYDROCHLORIDE
     Route: 065
  1048. LERCANIDIPINE HYDROCHLORIDE [Suspect]
     Active Substance: LERCANIDIPINE HYDROCHLORIDE
     Route: 065
  1049. LERCANIDIPINE HYDROCHLORIDE [Suspect]
     Active Substance: LERCANIDIPINE HYDROCHLORIDE
     Route: 065
  1050. LERCANIDIPINE HYDROCHLORIDE [Suspect]
     Active Substance: LERCANIDIPINE HYDROCHLORIDE
     Route: 065
  1051. LERCANIDIPINE HYDROCHLORIDE [Suspect]
     Active Substance: LERCANIDIPINE HYDROCHLORIDE
     Route: 065
  1052. LERCANIDIPINE HYDROCHLORIDE [Suspect]
     Active Substance: LERCANIDIPINE HYDROCHLORIDE
     Route: 065
  1053. LERCANIDIPINE HYDROCHLORIDE [Suspect]
     Active Substance: LERCANIDIPINE HYDROCHLORIDE
     Route: 065
  1054. LERCANIDIPINE HYDROCHLORIDE [Suspect]
     Active Substance: LERCANIDIPINE HYDROCHLORIDE
     Route: 065
  1055. LERCANIDIPINE HYDROCHLORIDE [Suspect]
     Active Substance: LERCANIDIPINE HYDROCHLORIDE
     Route: 065
  1056. LERCANIDIPINE HYDROCHLORIDE [Suspect]
     Active Substance: LERCANIDIPINE HYDROCHLORIDE
     Route: 065
  1057. LERCANIDIPINE HYDROCHLORIDE [Suspect]
     Active Substance: LERCANIDIPINE HYDROCHLORIDE
     Route: 065
  1058. LERCANIDIPINE HYDROCHLORIDE [Suspect]
     Active Substance: LERCANIDIPINE HYDROCHLORIDE
     Route: 065
  1059. LERCANIDIPINE HYDROCHLORIDE [Suspect]
     Active Substance: LERCANIDIPINE HYDROCHLORIDE
     Route: 065
  1060. LERCANIDIPINE HYDROCHLORIDE [Suspect]
     Active Substance: LERCANIDIPINE HYDROCHLORIDE
     Route: 065
  1061. LERCANIDIPINE HYDROCHLORIDE [Suspect]
     Active Substance: LERCANIDIPINE HYDROCHLORIDE
     Route: 065
  1062. LERCANIDIPINE HYDROCHLORIDE [Suspect]
     Active Substance: LERCANIDIPINE HYDROCHLORIDE
     Route: 065
  1063. LERCANIDIPINE HYDROCHLORIDE [Suspect]
     Active Substance: LERCANIDIPINE HYDROCHLORIDE
     Route: 065
  1064. LERCANIDIPINE HYDROCHLORIDE [Suspect]
     Active Substance: LERCANIDIPINE HYDROCHLORIDE
     Route: 065
  1065. LERCANIDIPINE HYDROCHLORIDE [Suspect]
     Active Substance: LERCANIDIPINE HYDROCHLORIDE
     Route: 065
  1066. LERCANIDIPINE HYDROCHLORIDE [Suspect]
     Active Substance: LERCANIDIPINE HYDROCHLORIDE
     Route: 065
  1067. LERCANIDIPINE HYDROCHLORIDE [Suspect]
     Active Substance: LERCANIDIPINE HYDROCHLORIDE
     Route: 065
  1068. LERCANIDIPINE HYDROCHLORIDE [Suspect]
     Active Substance: LERCANIDIPINE HYDROCHLORIDE
     Route: 065
  1069. LERCANIDIPINE HYDROCHLORIDE [Suspect]
     Active Substance: LERCANIDIPINE HYDROCHLORIDE
     Route: 065
  1070. LERCANIDIPINE HYDROCHLORIDE [Suspect]
     Active Substance: LERCANIDIPINE HYDROCHLORIDE
     Route: 065
  1071. LERCANIDIPINE HYDROCHLORIDE [Suspect]
     Active Substance: LERCANIDIPINE HYDROCHLORIDE
     Route: 065
  1072. LERCANIDIPINE HYDROCHLORIDE [Suspect]
     Active Substance: LERCANIDIPINE HYDROCHLORIDE
     Route: 065
  1073. LERCANIDIPINE HYDROCHLORIDE [Suspect]
     Active Substance: LERCANIDIPINE HYDROCHLORIDE
     Route: 065
  1074. LERCANIDIPINE HYDROCHLORIDE [Suspect]
     Active Substance: LERCANIDIPINE HYDROCHLORIDE
     Route: 065
  1075. LERCANIDIPINE HYDROCHLORIDE [Suspect]
     Active Substance: LERCANIDIPINE HYDROCHLORIDE
     Route: 065
  1076. LERCANIDIPINE HYDROCHLORIDE [Suspect]
     Active Substance: LERCANIDIPINE HYDROCHLORIDE
     Route: 065
  1077. LERCANIDIPINE HYDROCHLORIDE [Suspect]
     Active Substance: LERCANIDIPINE HYDROCHLORIDE
     Route: 065
  1078. LERCANIDIPINE HYDROCHLORIDE [Suspect]
     Active Substance: LERCANIDIPINE HYDROCHLORIDE
     Route: 065
  1079. LERCANIDIPINE HYDROCHLORIDE [Suspect]
     Active Substance: LERCANIDIPINE HYDROCHLORIDE
     Route: 065
  1080. LERCANIDIPINE HYDROCHLORIDE [Suspect]
     Active Substance: LERCANIDIPINE HYDROCHLORIDE
     Route: 065
  1081. LERCANIDIPINE HYDROCHLORIDE [Suspect]
     Active Substance: LERCANIDIPINE HYDROCHLORIDE
     Route: 065
  1082. LERCANIDIPINE HYDROCHLORIDE [Suspect]
     Active Substance: LERCANIDIPINE HYDROCHLORIDE
     Route: 065
  1083. LERCANIDIPINE HYDROCHLORIDE [Suspect]
     Active Substance: LERCANIDIPINE HYDROCHLORIDE
     Route: 065
  1084. LERCANIDIPINE HYDROCHLORIDE [Suspect]
     Active Substance: LERCANIDIPINE HYDROCHLORIDE
     Route: 065
  1085. LERCANIDIPINE HYDROCHLORIDE [Suspect]
     Active Substance: LERCANIDIPINE HYDROCHLORIDE
     Route: 065
  1086. LERCANIDIPINE HYDROCHLORIDE [Suspect]
     Active Substance: LERCANIDIPINE HYDROCHLORIDE
     Route: 065
  1087. LERCANIDIPINE HYDROCHLORIDE [Suspect]
     Active Substance: LERCANIDIPINE HYDROCHLORIDE
     Route: 065
  1088. LERCANIDIPINE HYDROCHLORIDE [Suspect]
     Active Substance: LERCANIDIPINE HYDROCHLORIDE
     Route: 065
  1089. LERCANIDIPINE HYDROCHLORIDE [Suspect]
     Active Substance: LERCANIDIPINE HYDROCHLORIDE
     Route: 065
  1090. LERCANIDIPINE HYDROCHLORIDE [Suspect]
     Active Substance: LERCANIDIPINE HYDROCHLORIDE
     Route: 065
  1091. LERCANIDIPINE HYDROCHLORIDE [Suspect]
     Active Substance: LERCANIDIPINE HYDROCHLORIDE
     Route: 065
  1092. LERCANIDIPINE HYDROCHLORIDE [Suspect]
     Active Substance: LERCANIDIPINE HYDROCHLORIDE
     Route: 065
  1093. LERCANIDIPINE HYDROCHLORIDE [Suspect]
     Active Substance: LERCANIDIPINE HYDROCHLORIDE
     Route: 065
  1094. LERCANIDIPINE HYDROCHLORIDE [Suspect]
     Active Substance: LERCANIDIPINE HYDROCHLORIDE
     Route: 065
  1095. LERCANIDIPINE HYDROCHLORIDE [Suspect]
     Active Substance: LERCANIDIPINE HYDROCHLORIDE
     Route: 065
  1096. LERCANIDIPINE HYDROCHLORIDE [Suspect]
     Active Substance: LERCANIDIPINE HYDROCHLORIDE
     Route: 065
  1097. LERCANIDIPINE HYDROCHLORIDE [Suspect]
     Active Substance: LERCANIDIPINE HYDROCHLORIDE
     Route: 065
  1098. LERCANIDIPINE HYDROCHLORIDE [Suspect]
     Active Substance: LERCANIDIPINE HYDROCHLORIDE
     Route: 065
  1099. LERCANIDIPINE HYDROCHLORIDE [Suspect]
     Active Substance: LERCANIDIPINE HYDROCHLORIDE
  1100. LERCANIDIPINE HYDROCHLORIDE [Suspect]
     Active Substance: LERCANIDIPINE HYDROCHLORIDE
  1101. LERCANIDIPINE HYDROCHLORIDE [Suspect]
     Active Substance: LERCANIDIPINE HYDROCHLORIDE
  1102. LERCANIDIPINE HYDROCHLORIDE [Suspect]
     Active Substance: LERCANIDIPINE HYDROCHLORIDE
  1103. LERCANIDIPINE HYDROCHLORIDE [Suspect]
     Active Substance: LERCANIDIPINE HYDROCHLORIDE
  1104. LERCANIDIPINE HYDROCHLORIDE [Suspect]
     Active Substance: LERCANIDIPINE HYDROCHLORIDE
  1105. LERCANIDIPINE HYDROCHLORIDE [Suspect]
     Active Substance: LERCANIDIPINE HYDROCHLORIDE
  1106. LERCANIDIPINE HYDROCHLORIDE [Suspect]
     Active Substance: LERCANIDIPINE HYDROCHLORIDE
  1107. LERCANIDIPINE HYDROCHLORIDE [Suspect]
     Active Substance: LERCANIDIPINE HYDROCHLORIDE
  1108. LERCANIDIPINE HYDROCHLORIDE [Suspect]
     Active Substance: LERCANIDIPINE HYDROCHLORIDE
  1109. LERCANIDIPINE HYDROCHLORIDE [Suspect]
     Active Substance: LERCANIDIPINE HYDROCHLORIDE
  1110. LERCANIDIPINE HYDROCHLORIDE [Suspect]
     Active Substance: LERCANIDIPINE HYDROCHLORIDE
  1111. LERCANIDIPINE HYDROCHLORIDE [Suspect]
     Active Substance: LERCANIDIPINE HYDROCHLORIDE
  1112. LERCANIDIPINE HYDROCHLORIDE [Suspect]
     Active Substance: LERCANIDIPINE HYDROCHLORIDE
  1113. LERCANIDIPINE HYDROCHLORIDE [Suspect]
     Active Substance: LERCANIDIPINE HYDROCHLORIDE
  1114. LERCANIDIPINE HYDROCHLORIDE [Suspect]
     Active Substance: LERCANIDIPINE HYDROCHLORIDE
  1115. LERCANIDIPINE HYDROCHLORIDE [Suspect]
     Active Substance: LERCANIDIPINE HYDROCHLORIDE
  1116. LERCANIDIPINE HYDROCHLORIDE [Suspect]
     Active Substance: LERCANIDIPINE HYDROCHLORIDE
  1117. LERCANIDIPINE HYDROCHLORIDE [Suspect]
     Active Substance: LERCANIDIPINE HYDROCHLORIDE
  1118. LERCANIDIPINE HYDROCHLORIDE [Suspect]
     Active Substance: LERCANIDIPINE HYDROCHLORIDE
  1119. LERCANIDIPINE HYDROCHLORIDE [Suspect]
     Active Substance: LERCANIDIPINE HYDROCHLORIDE
  1120. LERCANIDIPINE HYDROCHLORIDE [Suspect]
     Active Substance: LERCANIDIPINE HYDROCHLORIDE
  1121. LERCANIDIPINE HYDROCHLORIDE [Suspect]
     Active Substance: LERCANIDIPINE HYDROCHLORIDE
  1122. LERCANIDIPINE HYDROCHLORIDE [Suspect]
     Active Substance: LERCANIDIPINE HYDROCHLORIDE
  1123. LERCANIDIPINE HYDROCHLORIDE [Suspect]
     Active Substance: LERCANIDIPINE HYDROCHLORIDE
  1124. LERCANIDIPINE HYDROCHLORIDE [Suspect]
     Active Substance: LERCANIDIPINE HYDROCHLORIDE
  1125. LERCANIDIPINE HYDROCHLORIDE [Suspect]
     Active Substance: LERCANIDIPINE HYDROCHLORIDE
  1126. LERCANIDIPINE HYDROCHLORIDE [Suspect]
     Active Substance: LERCANIDIPINE HYDROCHLORIDE
  1127. LERCANIDIPINE HYDROCHLORIDE [Suspect]
     Active Substance: LERCANIDIPINE HYDROCHLORIDE
  1128. LERCANIDIPINE HYDROCHLORIDE [Suspect]
     Active Substance: LERCANIDIPINE HYDROCHLORIDE
     Route: 065
  1129. LERCANIDIPINE HYDROCHLORIDE [Suspect]
     Active Substance: LERCANIDIPINE HYDROCHLORIDE
     Route: 065
  1130. LERCANIDIPINE HYDROCHLORIDE [Suspect]
     Active Substance: LERCANIDIPINE HYDROCHLORIDE
     Route: 065
  1131. LERCANIDIPINE HYDROCHLORIDE [Suspect]
     Active Substance: LERCANIDIPINE HYDROCHLORIDE
     Route: 065
  1132. LERCANIDIPINE HYDROCHLORIDE [Suspect]
     Active Substance: LERCANIDIPINE HYDROCHLORIDE
     Route: 065
  1133. LERCANIDIPINE HYDROCHLORIDE [Suspect]
     Active Substance: LERCANIDIPINE HYDROCHLORIDE
     Route: 065
  1134. LERCANIDIPINE HYDROCHLORIDE [Suspect]
     Active Substance: LERCANIDIPINE HYDROCHLORIDE
  1135. LERCANIDIPINE HYDROCHLORIDE [Suspect]
     Active Substance: LERCANIDIPINE HYDROCHLORIDE
  1136. LERCANIDIPINE HYDROCHLORIDE [Suspect]
     Active Substance: LERCANIDIPINE HYDROCHLORIDE
  1137. LERCANIDIPINE HYDROCHLORIDE [Suspect]
     Active Substance: LERCANIDIPINE HYDROCHLORIDE
  1138. LERCANIDIPINE HYDROCHLORIDE [Suspect]
     Active Substance: LERCANIDIPINE HYDROCHLORIDE
  1139. LERCANIDIPINE HYDROCHLORIDE [Suspect]
     Active Substance: LERCANIDIPINE HYDROCHLORIDE
  1140. LERCANIDIPINE HYDROCHLORIDE [Suspect]
     Active Substance: LERCANIDIPINE HYDROCHLORIDE
  1141. LERCANIDIPINE HYDROCHLORIDE [Suspect]
     Active Substance: LERCANIDIPINE HYDROCHLORIDE
  1142. LERCANIDIPINE HYDROCHLORIDE [Suspect]
     Active Substance: LERCANIDIPINE HYDROCHLORIDE
  1143. LERCANIDIPINE HYDROCHLORIDE [Suspect]
     Active Substance: LERCANIDIPINE HYDROCHLORIDE
  1144. LERCANIDIPINE HYDROCHLORIDE [Suspect]
     Active Substance: LERCANIDIPINE HYDROCHLORIDE
  1145. LERCANIDIPINE HYDROCHLORIDE [Suspect]
     Active Substance: LERCANIDIPINE HYDROCHLORIDE
  1146. LERCANIDIPINE HYDROCHLORIDE [Suspect]
     Active Substance: LERCANIDIPINE HYDROCHLORIDE
  1147. LERCANIDIPINE HYDROCHLORIDE [Suspect]
     Active Substance: LERCANIDIPINE HYDROCHLORIDE
  1148. LERCANIDIPINE HYDROCHLORIDE [Suspect]
     Active Substance: LERCANIDIPINE HYDROCHLORIDE
  1149. LERCANIDIPINE HYDROCHLORIDE [Suspect]
     Active Substance: LERCANIDIPINE HYDROCHLORIDE
  1150. LERCANIDIPINE HYDROCHLORIDE [Suspect]
     Active Substance: LERCANIDIPINE HYDROCHLORIDE
  1151. LERCANIDIPINE HYDROCHLORIDE [Suspect]
     Active Substance: LERCANIDIPINE HYDROCHLORIDE
  1152. LERCANIDIPINE HYDROCHLORIDE [Suspect]
     Active Substance: LERCANIDIPINE HYDROCHLORIDE
  1153. LERCANIDIPINE HYDROCHLORIDE [Suspect]
     Active Substance: LERCANIDIPINE HYDROCHLORIDE
  1154. LERCANIDIPINE HYDROCHLORIDE [Suspect]
     Active Substance: LERCANIDIPINE HYDROCHLORIDE
  1155. LERCANIDIPINE HYDROCHLORIDE [Suspect]
     Active Substance: LERCANIDIPINE HYDROCHLORIDE
     Route: 065
  1156. LERCANIDIPINE HYDROCHLORIDE [Suspect]
     Active Substance: LERCANIDIPINE HYDROCHLORIDE
  1157. LERCANIDIPINE HYDROCHLORIDE [Suspect]
     Active Substance: LERCANIDIPINE HYDROCHLORIDE
     Route: 065
  1158. LERCANIDIPINE HYDROCHLORIDE [Suspect]
     Active Substance: LERCANIDIPINE HYDROCHLORIDE
  1159. LERCANIDIPINE HYDROCHLORIDE [Suspect]
     Active Substance: LERCANIDIPINE HYDROCHLORIDE
  1160. LERCANIDIPINE HYDROCHLORIDE [Suspect]
     Active Substance: LERCANIDIPINE HYDROCHLORIDE
  1161. LERCANIDIPINE HYDROCHLORIDE [Suspect]
     Active Substance: LERCANIDIPINE HYDROCHLORIDE
  1162. LERCANIDIPINE HYDROCHLORIDE [Suspect]
     Active Substance: LERCANIDIPINE HYDROCHLORIDE
  1163. LERCANIDIPINE HYDROCHLORIDE [Suspect]
     Active Substance: LERCANIDIPINE HYDROCHLORIDE
  1164. LERCANIDIPINE HYDROCHLORIDE [Suspect]
     Active Substance: LERCANIDIPINE HYDROCHLORIDE
  1165. LERCANIDIPINE HYDROCHLORIDE [Suspect]
     Active Substance: LERCANIDIPINE HYDROCHLORIDE
  1166. LERCANIDIPINE HYDROCHLORIDE [Suspect]
     Active Substance: LERCANIDIPINE HYDROCHLORIDE
  1167. LERCANIDIPINE HYDROCHLORIDE [Suspect]
     Active Substance: LERCANIDIPINE HYDROCHLORIDE
  1168. LERCANIDIPINE HYDROCHLORIDE [Suspect]
     Active Substance: LERCANIDIPINE HYDROCHLORIDE
  1169. LERCANIDIPINE HYDROCHLORIDE [Suspect]
     Active Substance: LERCANIDIPINE HYDROCHLORIDE
  1170. LERCANIDIPINE HYDROCHLORIDE [Suspect]
     Active Substance: LERCANIDIPINE HYDROCHLORIDE
  1171. LERCANIDIPINE HYDROCHLORIDE [Suspect]
     Active Substance: LERCANIDIPINE HYDROCHLORIDE
  1172. LERCANIDIPINE HYDROCHLORIDE [Suspect]
     Active Substance: LERCANIDIPINE HYDROCHLORIDE
  1173. LERCANIDIPINE HYDROCHLORIDE [Suspect]
     Active Substance: LERCANIDIPINE HYDROCHLORIDE
  1174. LERCANIDIPINE HYDROCHLORIDE [Suspect]
     Active Substance: LERCANIDIPINE HYDROCHLORIDE
     Route: 065
  1175. LERCANIDIPINE HYDROCHLORIDE [Suspect]
     Active Substance: LERCANIDIPINE HYDROCHLORIDE
  1176. LERCANIDIPINE HYDROCHLORIDE [Suspect]
     Active Substance: LERCANIDIPINE HYDROCHLORIDE
  1177. LERCANIDIPINE HYDROCHLORIDE [Suspect]
     Active Substance: LERCANIDIPINE HYDROCHLORIDE
  1178. LERCANIDIPINE HYDROCHLORIDE [Suspect]
     Active Substance: LERCANIDIPINE HYDROCHLORIDE
  1179. LERCANIDIPINE HYDROCHLORIDE [Suspect]
     Active Substance: LERCANIDIPINE HYDROCHLORIDE
     Route: 065
  1180. LERCANIDIPINE HYDROCHLORIDE [Suspect]
     Active Substance: LERCANIDIPINE HYDROCHLORIDE
     Indication: Hypertension
     Route: 065
  1181. LERCANIDIPINE HYDROCHLORIDE [Suspect]
     Active Substance: LERCANIDIPINE HYDROCHLORIDE
     Indication: Depression
     Route: 065
  1182. LERCANIDIPINE HYDROCHLORIDE [Suspect]
     Active Substance: LERCANIDIPINE HYDROCHLORIDE
     Indication: Blood cholesterol increased
  1183. LERCANIDIPINE HYDROCHLORIDE [Suspect]
     Active Substance: LERCANIDIPINE HYDROCHLORIDE
     Indication: Hypercholesterolaemia
  1184. SIMVASTATIN [Suspect]
     Active Substance: SIMVASTATIN
     Indication: Hypertension
     Route: 048
  1185. SIMVASTATIN [Suspect]
     Active Substance: SIMVASTATIN
     Indication: Depression
  1186. SIMVASTATIN [Suspect]
     Active Substance: SIMVASTATIN
     Indication: Blood cholesterol increased
  1187. SIMVASTATIN [Suspect]
     Active Substance: SIMVASTATIN
     Indication: Blood cholesterol increased
  1188. SIMVASTATIN [Suspect]
     Active Substance: SIMVASTATIN
     Indication: Hypertension
  1189. SIMVASTATIN [Suspect]
     Active Substance: SIMVASTATIN
  1190. SIMVASTATIN [Suspect]
     Active Substance: SIMVASTATIN
     Route: 048
  1191. SIMVASTATIN [Suspect]
     Active Substance: SIMVASTATIN
     Route: 048
  1192. SIMVASTATIN [Suspect]
     Active Substance: SIMVASTATIN
     Route: 048
  1193. SIMVASTATIN [Suspect]
     Active Substance: SIMVASTATIN
  1194. SIMVASTATIN [Suspect]
     Active Substance: SIMVASTATIN
  1195. SIMVASTATIN [Suspect]
     Active Substance: SIMVASTATIN
  1196. SIMVASTATIN [Suspect]
     Active Substance: SIMVASTATIN
  1197. SIMVASTATIN [Suspect]
     Active Substance: SIMVASTATIN
  1198. SIMVASTATIN [Suspect]
     Active Substance: SIMVASTATIN
  1199. SIMVASTATIN [Suspect]
     Active Substance: SIMVASTATIN
     Route: 048
  1200. SIMVASTATIN [Suspect]
     Active Substance: SIMVASTATIN
     Route: 048
  1201. SIMVASTATIN [Suspect]
     Active Substance: SIMVASTATIN
  1202. SIMVASTATIN [Suspect]
     Active Substance: SIMVASTATIN
  1203. SIMVASTATIN [Suspect]
     Active Substance: SIMVASTATIN
  1204. SIMVASTATIN [Suspect]
     Active Substance: SIMVASTATIN
  1205. SIMVASTATIN [Suspect]
     Active Substance: SIMVASTATIN
  1206. SIMVASTATIN [Suspect]
     Active Substance: SIMVASTATIN
     Route: 048
  1207. SIMVASTATIN [Suspect]
     Active Substance: SIMVASTATIN
  1208. SIMVASTATIN [Suspect]
     Active Substance: SIMVASTATIN
     Route: 048
  1209. SIMVASTATIN [Suspect]
     Active Substance: SIMVASTATIN
     Route: 048
  1210. SIMVASTATIN [Suspect]
     Active Substance: SIMVASTATIN
     Route: 048
  1211. SIMVASTATIN [Suspect]
     Active Substance: SIMVASTATIN
     Route: 048
  1212. SIMVASTATIN [Suspect]
     Active Substance: SIMVASTATIN
     Route: 048
  1213. SIMVASTATIN [Suspect]
     Active Substance: SIMVASTATIN
     Route: 048
  1214. SIMVASTATIN [Suspect]
     Active Substance: SIMVASTATIN
  1215. SIMVASTATIN [Suspect]
     Active Substance: SIMVASTATIN
  1216. SIMVASTATIN [Suspect]
     Active Substance: SIMVASTATIN
  1217. SIMVASTATIN [Suspect]
     Active Substance: SIMVASTATIN
  1218. SIMVASTATIN [Suspect]
     Active Substance: SIMVASTATIN
     Route: 048
  1219. SIMVASTATIN [Suspect]
     Active Substance: SIMVASTATIN
     Route: 048
  1220. SIMVASTATIN [Suspect]
     Active Substance: SIMVASTATIN
     Route: 048
  1221. SIMVASTATIN [Suspect]
     Active Substance: SIMVASTATIN
     Route: 048
  1222. SIMVASTATIN [Suspect]
     Active Substance: SIMVASTATIN
     Route: 048
  1223. SIMVASTATIN [Suspect]
     Active Substance: SIMVASTATIN
     Route: 048
  1224. SIMVASTATIN [Suspect]
     Active Substance: SIMVASTATIN
     Route: 048
  1225. SIMVASTATIN [Suspect]
     Active Substance: SIMVASTATIN
     Route: 048
  1226. SIMVASTATIN [Suspect]
     Active Substance: SIMVASTATIN
     Route: 048
  1227. SIMVASTATIN [Suspect]
     Active Substance: SIMVASTATIN
     Route: 048
  1228. SIMVASTATIN [Suspect]
     Active Substance: SIMVASTATIN
     Route: 048
  1229. SIMVASTATIN [Suspect]
     Active Substance: SIMVASTATIN
     Route: 048
  1230. SIMVASTATIN [Suspect]
     Active Substance: SIMVASTATIN
     Route: 048
  1231. SIMVASTATIN [Suspect]
     Active Substance: SIMVASTATIN
     Route: 048
  1232. SIMVASTATIN [Suspect]
     Active Substance: SIMVASTATIN
  1233. SIMVASTATIN [Suspect]
     Active Substance: SIMVASTATIN
     Route: 048
  1234. SIMVASTATIN [Suspect]
     Active Substance: SIMVASTATIN
     Route: 065
  1235. SIMVASTATIN [Suspect]
     Active Substance: SIMVASTATIN
     Route: 048
  1236. SIMVASTATIN [Suspect]
     Active Substance: SIMVASTATIN
     Route: 048
  1237. SIMVASTATIN [Suspect]
     Active Substance: SIMVASTATIN
     Route: 048
  1238. SIMVASTATIN [Suspect]
     Active Substance: SIMVASTATIN
     Route: 048
  1239. SIMVASTATIN [Suspect]
     Active Substance: SIMVASTATIN
     Route: 048
  1240. SIMVASTATIN [Suspect]
     Active Substance: SIMVASTATIN
     Route: 048
  1241. SIMVASTATIN [Suspect]
     Active Substance: SIMVASTATIN
     Route: 048
  1242. SIMVASTATIN [Suspect]
     Active Substance: SIMVASTATIN
     Route: 065
  1243. SIMVASTATIN [Suspect]
     Active Substance: SIMVASTATIN
     Route: 048
  1244. SIMVASTATIN [Suspect]
     Active Substance: SIMVASTATIN
     Route: 048
  1245. SIMVASTATIN [Suspect]
     Active Substance: SIMVASTATIN
     Route: 048
  1246. SIMVASTATIN [Suspect]
     Active Substance: SIMVASTATIN
     Route: 048
  1247. SIMVASTATIN [Suspect]
     Active Substance: SIMVASTATIN
     Route: 048
  1248. SIMVASTATIN [Suspect]
     Active Substance: SIMVASTATIN
     Route: 048
  1249. SIMVASTATIN [Suspect]
     Active Substance: SIMVASTATIN
     Route: 048
  1250. SIMVASTATIN [Suspect]
     Active Substance: SIMVASTATIN
     Route: 048
  1251. SIMVASTATIN [Suspect]
     Active Substance: SIMVASTATIN
     Route: 048
  1252. SIMVASTATIN [Suspect]
     Active Substance: SIMVASTATIN
     Route: 048
  1253. SIMVASTATIN [Suspect]
     Active Substance: SIMVASTATIN
     Route: 048
  1254. SIMVASTATIN [Suspect]
     Active Substance: SIMVASTATIN
     Route: 048
  1255. SIMVASTATIN [Suspect]
     Active Substance: SIMVASTATIN
     Route: 048
  1256. SIMVASTATIN [Suspect]
     Active Substance: SIMVASTATIN
     Route: 065
  1257. SIMVASTATIN [Suspect]
     Active Substance: SIMVASTATIN
     Route: 048
  1258. SIMVASTATIN [Suspect]
     Active Substance: SIMVASTATIN
     Route: 065
  1259. SIMVASTATIN [Suspect]
     Active Substance: SIMVASTATIN
     Route: 048
  1260. SIMVASTATIN [Suspect]
     Active Substance: SIMVASTATIN
     Route: 048
  1261. SIMVASTATIN [Suspect]
     Active Substance: SIMVASTATIN
     Route: 048
  1262. SIMVASTATIN [Suspect]
     Active Substance: SIMVASTATIN
     Route: 048
  1263. SIMVASTATIN [Suspect]
     Active Substance: SIMVASTATIN
     Route: 048
  1264. SIMVASTATIN [Suspect]
     Active Substance: SIMVASTATIN
     Route: 048
  1265. SIMVASTATIN [Suspect]
     Active Substance: SIMVASTATIN
     Route: 048
  1266. SIMVASTATIN [Suspect]
     Active Substance: SIMVASTATIN
     Route: 048
  1267. SIMVASTATIN [Suspect]
     Active Substance: SIMVASTATIN
     Route: 065
  1268. SIMVASTATIN [Suspect]
     Active Substance: SIMVASTATIN
     Route: 048
  1269. SIMVASTATIN [Suspect]
     Active Substance: SIMVASTATIN
     Route: 048
  1270. SIMVASTATIN [Suspect]
     Active Substance: SIMVASTATIN
     Route: 048
  1271. SIMVASTATIN [Suspect]
     Active Substance: SIMVASTATIN
     Route: 048
  1272. SIMVASTATIN [Suspect]
     Active Substance: SIMVASTATIN
     Route: 048
  1273. SIMVASTATIN [Suspect]
     Active Substance: SIMVASTATIN
     Route: 048
  1274. SIMVASTATIN [Suspect]
     Active Substance: SIMVASTATIN
  1275. AMLODIPINE [Suspect]
     Active Substance: AMLODIPINE BESYLATE
     Indication: Hypertension
  1276. AMLODIPINE [Suspect]
     Active Substance: AMLODIPINE BESYLATE
     Indication: Depression
  1277. FLUOXETINE [Suspect]
     Active Substance: FLUOXETINE HYDROCHLORIDE
     Indication: Hypertension
  1278. FLUOXETINE [Suspect]
     Active Substance: FLUOXETINE HYDROCHLORIDE
     Indication: Depression
  1279. HYRIMOZ [Suspect]
     Active Substance: ADALIMUMAB-ADAZ
     Indication: Psoriasis
     Route: 058
     Dates: start: 20231004, end: 20231025
  1280. HYRIMOZ [Suspect]
     Active Substance: ADALIMUMAB-ADAZ
     Route: 058
     Dates: start: 20231004, end: 20231025
  1281. LERCANIDIPINE [Suspect]
     Active Substance: LERCANIDIPINE
     Indication: Hypertension
  1282. LERCANIDIPINE [Suspect]
     Active Substance: LERCANIDIPINE
     Indication: Depression

REACTIONS (3)
  - Dermatitis exfoliative generalised [Unknown]
  - Rubber sensitivity [Unknown]
  - Incorrect route of product administration [Recovered/Resolved]
